FAERS Safety Report 25803942 (Version 4)
Quarter: 2025Q3

REPORT INFORMATION
  Report Type: Spontaneous
  Country: CA (occurrence: CA)
  Receive Date: 20250915
  Receipt Date: 20250925
  Transmission Date: 20251021
  Serious: Yes (Death, Life-Threatening, Hospitalization, Disabling, Congenital Anomaly, Other)
  Sender: PFIZER
  Company Number: CA-PFIZER INC-202500179674

PATIENT
  Age: 40 Year
  Sex: Female
  Weight: 95.98 kg

DRUGS (871)
  1. ENBREL [Suspect]
     Active Substance: ETANERCEPT
     Indication: Rheumatoid arthritis
     Route: 058
     Dates: start: 200503, end: 200602
  2. ENBREL [Suspect]
     Active Substance: ETANERCEPT
     Dosage: 10 MG, WEEKLY
     Route: 058
  3. ENBREL [Suspect]
     Active Substance: ETANERCEPT
     Route: 058
  4. ENBREL [Suspect]
     Active Substance: ETANERCEPT
     Dosage: 50 MG, WEEKLY
     Route: 058
     Dates: start: 200503
  5. ENBREL [Suspect]
     Active Substance: ETANERCEPT
     Route: 065
  6. ENBREL [Suspect]
     Active Substance: ETANERCEPT
     Route: 042
  7. ENBREL [Suspect]
     Active Substance: ETANERCEPT
     Route: 058
  8. ENBREL [Suspect]
     Active Substance: ETANERCEPT
     Route: 065
  9. ENBREL [Suspect]
     Active Substance: ETANERCEPT
     Route: 058
  10. ENBREL [Suspect]
     Active Substance: ETANERCEPT
     Route: 058
  11. ENBREL [Suspect]
     Active Substance: ETANERCEPT
     Dosage: 10 MG, WEEKLY
     Route: 065
  12. ENBREL [Suspect]
     Active Substance: ETANERCEPT
     Route: 058
  13. ENBREL [Suspect]
     Active Substance: ETANERCEPT
     Dosage: 40 MG, WEEKLY
     Route: 058
  14. ENBREL [Suspect]
     Active Substance: ETANERCEPT
     Dosage: 50 MG, QD
     Route: 058
  15. ENBREL [Suspect]
     Active Substance: ETANERCEPT
     Dosage: 10 MG, QD
     Route: 065
  16. ENBREL [Suspect]
     Active Substance: ETANERCEPT
     Dosage: 50 MG, WEEKLY
     Route: 058
  17. ENBREL [Suspect]
     Active Substance: ETANERCEPT
     Dosage: 50 MG, WEEKLY
     Route: 058
  18. ENBREL [Suspect]
     Active Substance: ETANERCEPT
     Route: 065
  19. ENBREL [Suspect]
     Active Substance: ETANERCEPT
     Route: 065
  20. ENBREL [Suspect]
     Active Substance: ETANERCEPT
     Route: 058
  21. ENBREL [Suspect]
     Active Substance: ETANERCEPT
     Route: 058
  22. ENBREL [Suspect]
     Active Substance: ETANERCEPT
     Dosage: 50 MG, WEEKLY
     Route: 065
  23. ENBREL [Suspect]
     Active Substance: ETANERCEPT
     Route: 058
  24. ENBREL [Suspect]
     Active Substance: ETANERCEPT
     Route: 065
  25. ENBREL [Suspect]
     Active Substance: ETANERCEPT
     Route: 058
  26. ENBREL [Suspect]
     Active Substance: ETANERCEPT
     Route: 058
  27. ENBREL [Suspect]
     Active Substance: ETANERCEPT
     Route: 058
  28. ENBREL [Suspect]
     Active Substance: ETANERCEPT
     Route: 065
  29. ENBREL [Suspect]
     Active Substance: ETANERCEPT
     Route: 065
  30. ENBREL [Suspect]
     Active Substance: ETANERCEPT
     Dosage: 40 MG, 1X/DAY
     Route: 058
  31. ENBREL [Suspect]
     Active Substance: ETANERCEPT
     Dosage: 10 MG, 1X/DAY
     Route: 058
  32. ENBREL [Suspect]
     Active Substance: ETANERCEPT
     Dosage: 50 MG, WEEKLY
     Route: 058
  33. ENBREL [Suspect]
     Active Substance: ETANERCEPT
     Dosage: 10 MG, WEEKLY
     Route: 058
  34. ENBREL [Suspect]
     Active Substance: ETANERCEPT
     Dosage: 50 MG, WEEKLY
     Route: 058
  35. ENBREL [Suspect]
     Active Substance: ETANERCEPT
     Dosage: 40 MG, WEEKLY
  36. ENBREL [Suspect]
     Active Substance: ETANERCEPT
     Dosage: 400 MG, WEEKLY
  37. ENBREL [Suspect]
     Active Substance: ETANERCEPT
     Route: 058
  38. ADALIMUMAB [Suspect]
     Active Substance: ADALIMUMAB
     Indication: Rheumatoid arthritis
     Route: 058
  39. ADALIMUMAB [Suspect]
     Active Substance: ADALIMUMAB
     Route: 058
  40. ADALIMUMAB [Suspect]
     Active Substance: ADALIMUMAB
     Dosage: 40 MG, WEEKLY
     Route: 058
  41. ADALIMUMAB [Suspect]
     Active Substance: ADALIMUMAB
     Route: 058
  42. ADALIMUMAB [Suspect]
     Active Substance: ADALIMUMAB
     Route: 058
  43. ADALIMUMAB [Suspect]
     Active Substance: ADALIMUMAB
     Route: 040
  44. ADALIMUMAB [Suspect]
     Active Substance: ADALIMUMAB
     Route: 040
  45. ADALIMUMAB [Suspect]
     Active Substance: ADALIMUMAB
     Route: 058
  46. ADALIMUMAB [Suspect]
     Active Substance: ADALIMUMAB
     Route: 058
  47. ADALIMUMAB [Suspect]
     Active Substance: ADALIMUMAB
     Route: 058
  48. ADALIMUMAB [Suspect]
     Active Substance: ADALIMUMAB
     Route: 065
  49. ADALIMUMAB [Suspect]
     Active Substance: ADALIMUMAB
     Route: 065
  50. ADALIMUMAB [Suspect]
     Active Substance: ADALIMUMAB
     Route: 065
  51. ADALIMUMAB [Suspect]
     Active Substance: ADALIMUMAB
     Route: 040
  52. ADALIMUMAB [Suspect]
     Active Substance: ADALIMUMAB
     Dosage: 40 MG, QWK
     Route: 065
  53. ADALIMUMAB [Suspect]
     Active Substance: ADALIMUMAB
     Route: 040
  54. ADALIMUMAB [Suspect]
     Active Substance: ADALIMUMAB
     Route: 065
  55. ADALIMUMAB [Suspect]
     Active Substance: ADALIMUMAB
     Route: 040
  56. ADALIMUMAB [Suspect]
     Active Substance: ADALIMUMAB
     Route: 058
  57. ADALIMUMAB [Suspect]
     Active Substance: ADALIMUMAB
     Route: 058
  58. ADALIMUMAB [Suspect]
     Active Substance: ADALIMUMAB
     Route: 058
  59. ADALIMUMAB [Suspect]
     Active Substance: ADALIMUMAB
     Route: 058
  60. ADALIMUMAB [Suspect]
     Active Substance: ADALIMUMAB
     Route: 058
  61. ADALIMUMAB [Suspect]
     Active Substance: ADALIMUMAB
     Route: 058
  62. ADALIMUMAB [Suspect]
     Active Substance: ADALIMUMAB
     Route: 065
  63. FOLIC ACID [Suspect]
     Active Substance: FOLIC ACID
     Route: 065
  64. FOLIC ACID [Suspect]
     Active Substance: FOLIC ACID
     Route: 048
  65. FOLIC ACID [Suspect]
     Active Substance: FOLIC ACID
     Route: 058
  66. FOLIC ACID [Suspect]
     Active Substance: FOLIC ACID
     Route: 048
  67. FOLIC ACID [Suspect]
     Active Substance: FOLIC ACID
     Route: 048
  68. FOLIC ACID [Suspect]
     Active Substance: FOLIC ACID
     Route: 048
  69. FOLIC ACID [Suspect]
     Active Substance: FOLIC ACID
     Route: 058
  70. FOLIC ACID [Suspect]
     Active Substance: FOLIC ACID
     Route: 048
  71. FOLIC ACID [Suspect]
     Active Substance: FOLIC ACID
     Route: 065
  72. FOLIC ACID [Suspect]
     Active Substance: FOLIC ACID
     Route: 065
  73. FOLIC ACID [Suspect]
     Active Substance: FOLIC ACID
     Route: 058
  74. FOLIC ACID [Suspect]
     Active Substance: FOLIC ACID
     Route: 065
  75. FOLIC ACID [Suspect]
     Active Substance: FOLIC ACID
     Route: 065
  76. FOLIC ACID [Suspect]
     Active Substance: FOLIC ACID
     Route: 065
  77. FOLIC ACID [Suspect]
     Active Substance: FOLIC ACID
     Route: 065
  78. FOLIC ACID [Suspect]
     Active Substance: FOLIC ACID
     Route: 065
  79. FOLIC ACID [Suspect]
     Active Substance: FOLIC ACID
     Route: 065
  80. FOLIC ACID [Suspect]
     Active Substance: FOLIC ACID
     Route: 065
  81. FOLIC ACID [Suspect]
     Active Substance: FOLIC ACID
     Route: 065
  82. FOLIC ACID [Suspect]
     Active Substance: FOLIC ACID
     Route: 065
  83. FOLIC ACID [Suspect]
     Active Substance: FOLIC ACID
     Route: 048
  84. FOLIC ACID [Suspect]
     Active Substance: FOLIC ACID
     Route: 058
  85. INFLIXIMAB [Suspect]
     Active Substance: INFLIXIMAB
     Indication: Rheumatoid arthritis
     Route: 042
  86. INFLIXIMAB [Suspect]
     Active Substance: INFLIXIMAB
     Route: 042
  87. INFLIXIMAB [Suspect]
     Active Substance: INFLIXIMAB
     Route: 042
  88. INFLIXIMAB [Suspect]
     Active Substance: INFLIXIMAB
     Route: 065
  89. INFLIXIMAB [Suspect]
     Active Substance: INFLIXIMAB
     Route: 042
  90. INFLIXIMAB [Suspect]
     Active Substance: INFLIXIMAB
     Route: 040
  91. INFLIXIMAB [Suspect]
     Active Substance: INFLIXIMAB
     Route: 040
  92. INFLIXIMAB [Suspect]
     Active Substance: INFLIXIMAB
     Route: 040
  93. INFLIXIMAB [Suspect]
     Active Substance: INFLIXIMAB
     Route: 042
  94. INFLIXIMAB [Suspect]
     Active Substance: INFLIXIMAB
     Route: 042
  95. INFLIXIMAB [Suspect]
     Active Substance: INFLIXIMAB
  96. INFLIXIMAB [Suspect]
     Active Substance: INFLIXIMAB
  97. INFLIXIMAB [Suspect]
     Active Substance: INFLIXIMAB
     Route: 040
  98. INFLIXIMAB [Suspect]
     Active Substance: INFLIXIMAB
     Route: 058
  99. INFLIXIMAB [Suspect]
     Active Substance: INFLIXIMAB
     Route: 065
  100. INFLIXIMAB [Suspect]
     Active Substance: INFLIXIMAB
     Route: 040
  101. INFLIXIMAB [Suspect]
     Active Substance: INFLIXIMAB
     Route: 040
  102. INFLIXIMAB [Suspect]
     Active Substance: INFLIXIMAB
     Route: 040
  103. INFLIXIMAB [Suspect]
     Active Substance: INFLIXIMAB
     Route: 065
  104. INFLIXIMAB [Suspect]
     Active Substance: INFLIXIMAB
     Route: 065
  105. INFLIXIMAB [Suspect]
     Active Substance: INFLIXIMAB
     Route: 040
  106. INFLIXIMAB [Suspect]
     Active Substance: INFLIXIMAB
     Route: 058
  107. INFLIXIMAB [Suspect]
     Active Substance: INFLIXIMAB
     Dosage: 500 MG, QD
     Route: 040
  108. INFLIXIMAB [Suspect]
     Active Substance: INFLIXIMAB
     Route: 065
  109. INFLIXIMAB [Suspect]
     Active Substance: INFLIXIMAB
     Route: 065
  110. INFLIXIMAB [Suspect]
     Active Substance: INFLIXIMAB
     Route: 040
  111. INFLIXIMAB [Suspect]
     Active Substance: INFLIXIMAB
     Route: 040
  112. INFLIXIMAB [Suspect]
     Active Substance: INFLIXIMAB
     Route: 065
  113. INFLIXIMAB [Suspect]
     Active Substance: INFLIXIMAB
     Route: 065
  114. INFLIXIMAB [Suspect]
     Active Substance: INFLIXIMAB
     Route: 040
  115. INFLIXIMAB [Suspect]
     Active Substance: INFLIXIMAB
     Route: 065
  116. INFLIXIMAB [Suspect]
     Active Substance: INFLIXIMAB
     Route: 065
  117. INFLIXIMAB [Suspect]
     Active Substance: INFLIXIMAB
     Route: 065
  118. INFLIXIMAB [Suspect]
     Active Substance: INFLIXIMAB
     Route: 065
  119. INFLIXIMAB [Suspect]
     Active Substance: INFLIXIMAB
     Route: 065
  120. INFLIXIMAB [Suspect]
     Active Substance: INFLIXIMAB
     Route: 065
  121. INFLIXIMAB [Suspect]
     Active Substance: INFLIXIMAB
     Route: 065
  122. INFLIXIMAB [Suspect]
     Active Substance: INFLIXIMAB
     Route: 065
  123. INFLIXIMAB [Suspect]
     Active Substance: INFLIXIMAB
     Route: 065
  124. INFLIXIMAB [Suspect]
     Active Substance: INFLIXIMAB
     Route: 065
  125. INFLIXIMAB [Suspect]
     Active Substance: INFLIXIMAB
     Route: 065
  126. INFLIXIMAB [Suspect]
     Active Substance: INFLIXIMAB
     Route: 065
  127. INFLIXIMAB [Suspect]
     Active Substance: INFLIXIMAB
     Route: 040
  128. INFLIXIMAB [Suspect]
     Active Substance: INFLIXIMAB
     Route: 040
  129. INFLIXIMAB [Suspect]
     Active Substance: INFLIXIMAB
     Route: 040
  130. INFLIXIMAB [Suspect]
     Active Substance: INFLIXIMAB
     Route: 040
  131. INFLIXIMAB [Suspect]
     Active Substance: INFLIXIMAB
     Route: 040
  132. INFLIXIMAB [Suspect]
     Active Substance: INFLIXIMAB
     Route: 065
  133. INFLIXIMAB [Suspect]
     Active Substance: INFLIXIMAB
     Route: 065
  134. INFLIXIMAB [Suspect]
     Active Substance: INFLIXIMAB
     Route: 040
  135. XELJANZ [Suspect]
     Active Substance: TOFACITINIB CITRATE
     Indication: Rheumatoid arthritis
     Route: 065
  136. XELJANZ [Suspect]
     Active Substance: TOFACITINIB CITRATE
     Dosage: 5 MG, 2X/DAY
     Route: 065
  137. XELJANZ [Suspect]
     Active Substance: TOFACITINIB CITRATE
     Dosage: 5 MG, 2X/DAY
     Route: 065
  138. XELJANZ [Suspect]
     Active Substance: TOFACITINIB CITRATE
     Dosage: 5 MG, 2X/DAY
     Route: 048
  139. XELJANZ [Suspect]
     Active Substance: TOFACITINIB CITRATE
     Route: 048
  140. XELJANZ [Suspect]
     Active Substance: TOFACITINIB CITRATE
     Route: 065
  141. XELJANZ [Suspect]
     Active Substance: TOFACITINIB CITRATE
     Dosage: 10 MG, 2X/DAY
     Route: 048
  142. XELJANZ [Suspect]
     Active Substance: TOFACITINIB CITRATE
     Route: 048
  143. XELJANZ [Suspect]
     Active Substance: TOFACITINIB CITRATE
     Route: 065
  144. XELJANZ [Suspect]
     Active Substance: TOFACITINIB CITRATE
     Dosage: 20 MG, 1X/DAY
     Route: 048
  145. XELJANZ [Suspect]
     Active Substance: TOFACITINIB CITRATE
     Dosage: 10 MG, 1X/DAY
     Route: 065
  146. XELJANZ [Suspect]
     Active Substance: TOFACITINIB CITRATE
     Dosage: 10 MG, 1X/DAY
     Route: 048
  147. XELJANZ [Suspect]
     Active Substance: TOFACITINIB CITRATE
     Dosage: 240 MG, 1X/DAY
     Route: 048
  148. XELJANZ [Suspect]
     Active Substance: TOFACITINIB CITRATE
     Route: 065
  149. XELJANZ [Suspect]
     Active Substance: TOFACITINIB CITRATE
     Dosage: 20 MG, 1X/DAY
     Route: 065
  150. XELJANZ [Suspect]
     Active Substance: TOFACITINIB CITRATE
     Dosage: 5 MG, 2X/DAY
     Route: 048
  151. METHOTREXATE SODIUM [Suspect]
     Active Substance: METHOTREXATE SODIUM
     Indication: Rheumatoid arthritis
     Route: 065
  152. METHOTREXATE SODIUM [Suspect]
     Active Substance: METHOTREXATE SODIUM
     Route: 048
  153. METHOTREXATE SODIUM [Suspect]
     Active Substance: METHOTREXATE SODIUM
     Dosage: 15 MG, WEEKLY
     Route: 048
  154. METHOTREXATE SODIUM [Suspect]
     Active Substance: METHOTREXATE SODIUM
     Dosage: 25 MG, WEEKLY
     Route: 048
  155. METHOTREXATE SODIUM [Suspect]
     Active Substance: METHOTREXATE SODIUM
     Dosage: 20 MG, 1X/DAY
     Route: 048
  156. METHOTREXATE SODIUM [Suspect]
     Active Substance: METHOTREXATE SODIUM
     Dosage: 25 MG, WEEKLY
     Route: 048
  157. METHOTREXATE SODIUM [Suspect]
     Active Substance: METHOTREXATE SODIUM
     Route: 048
  158. METHOTREXATE SODIUM [Suspect]
     Active Substance: METHOTREXATE SODIUM
     Dosage: 25 MG, WEEKLY
     Route: 065
  159. METHOTREXATE SODIUM [Suspect]
     Active Substance: METHOTREXATE SODIUM
     Dosage: 20 MG, WEEKLY
     Route: 058
  160. METHOTREXATE SODIUM [Suspect]
     Active Substance: METHOTREXATE SODIUM
     Dosage: 15 MG, WEEKLY
     Route: 058
  161. METHOTREXATE SODIUM [Suspect]
     Active Substance: METHOTREXATE SODIUM
     Route: 065
  162. METHOTREXATE SODIUM [Suspect]
     Active Substance: METHOTREXATE SODIUM
     Route: 065
  163. METHOTREXATE SODIUM [Suspect]
     Active Substance: METHOTREXATE SODIUM
     Dosage: 25 MG, WEEKLY
     Route: 013
  164. METHOTREXATE SODIUM [Suspect]
     Active Substance: METHOTREXATE SODIUM
     Dosage: 25 MG, 2X/DAY
  165. METHOTREXATE SODIUM [Suspect]
     Active Substance: METHOTREXATE SODIUM
  166. METHOTREXATE SODIUM [Suspect]
     Active Substance: METHOTREXATE SODIUM
  167. METHOTREXATE SODIUM [Suspect]
     Active Substance: METHOTREXATE SODIUM
     Dosage: 25 MG, 1X/DAY
  168. METHOTREXATE SODIUM [Suspect]
     Active Substance: METHOTREXATE SODIUM
     Dosage: 20 MG, 1X/DAY
  169. METHOTREXATE SODIUM [Suspect]
     Active Substance: METHOTREXATE SODIUM
  170. METHOTREXATE SODIUM [Suspect]
     Active Substance: METHOTREXATE SODIUM
  171. METHOTREXATE SODIUM [Suspect]
     Active Substance: METHOTREXATE SODIUM
  172. METHOTREXATE SODIUM [Suspect]
     Active Substance: METHOTREXATE SODIUM
  173. METHOTREXATE SODIUM [Suspect]
     Active Substance: METHOTREXATE SODIUM
     Dosage: 15 MG, WEEKLY
     Route: 048
  174. METHOTREXATE SODIUM [Suspect]
     Active Substance: METHOTREXATE SODIUM
     Route: 058
  175. METHYLPREDNISOLONE [Suspect]
     Active Substance: METHYLPREDNISOLONE
     Route: 065
  176. METHYLPREDNISOLONE [Suspect]
     Active Substance: METHYLPREDNISOLONE
     Route: 065
  177. MINOCIN [Suspect]
     Active Substance: MINOCYCLINE HYDROCHLORIDE
     Indication: Rheumatoid arthritis
     Route: 065
  178. PANTOPRAZOLE [Suspect]
     Active Substance: PANTOPRAZOLE
     Route: 065
  179. RITUXIMAB [Suspect]
     Active Substance: RITUXIMAB
     Indication: Rheumatoid arthritis
     Route: 065
  180. RITUXIMAB [Suspect]
     Active Substance: RITUXIMAB
     Dosage: 1000 MG, 2X/DAY (5 MONTHS), INTRAVENOUS DRIP
     Route: 065
  181. RITUXIMAB [Suspect]
     Active Substance: RITUXIMAB
     Dosage: 1000 MG, 2X/DAY
     Route: 042
  182. RITUXIMAB [Suspect]
     Active Substance: RITUXIMAB
     Dosage: 2000 MG, 1X/DAY
     Route: 042
  183. RITUXIMAB [Suspect]
     Active Substance: RITUXIMAB
     Dosage: 1 G, 2X/DAY INTRAVENOUS DRIP
     Route: 042
  184. RITUXIMAB [Suspect]
     Active Substance: RITUXIMAB
     Dosage: 2000 MG, 1X/DAY
     Route: 042
  185. RITUXIMAB [Suspect]
     Active Substance: RITUXIMAB
     Dosage: 2 G, 2X/DAY
     Route: 042
  186. RITUXIMAB [Suspect]
     Active Substance: RITUXIMAB
     Route: 041
  187. RITUXIMAB [Suspect]
     Active Substance: RITUXIMAB
     Route: 058
  188. RITUXIMAB [Suspect]
     Active Substance: RITUXIMAB
     Route: 065
  189. RITUXIMAB [Suspect]
     Active Substance: RITUXIMAB
     Route: 016
  190. RITUXIMAB [Suspect]
     Active Substance: RITUXIMAB
     Route: 043
  191. RITUXIMAB [Suspect]
     Active Substance: RITUXIMAB
     Route: 058
  192. RITUXIMAB [Suspect]
     Active Substance: RITUXIMAB
     Route: 058
  193. RITUXIMAB [Suspect]
     Active Substance: RITUXIMAB
     Route: 065
  194. RITUXIMAB [Suspect]
     Active Substance: RITUXIMAB
     Route: 016
  195. RITUXIMAB [Suspect]
     Active Substance: RITUXIMAB
     Route: 043
  196. RITUXIMAB [Suspect]
     Active Substance: RITUXIMAB
     Route: 065
  197. RITUXIMAB [Suspect]
     Active Substance: RITUXIMAB
     Route: 040
  198. RITUXIMAB [Suspect]
     Active Substance: RITUXIMAB
     Dosage: 1000 MG, 2X/DAY, Q12H
     Route: 065
  199. RITUXIMAB [Suspect]
     Active Substance: RITUXIMAB
     Route: 058
  200. RITUXIMAB [Suspect]
     Active Substance: RITUXIMAB
     Route: 058
  201. RITUXIMAB [Suspect]
     Active Substance: RITUXIMAB
     Dosage: 1 G, 2X/DAY
     Route: 040
  202. RITUXIMAB [Suspect]
     Active Substance: RITUXIMAB
     Route: 042
  203. RITUXIMAB [Suspect]
     Active Substance: RITUXIMAB
     Route: 043
  204. RITUXIMAB [Suspect]
     Active Substance: RITUXIMAB
     Route: 016
  205. RITUXIMAB [Suspect]
     Active Substance: RITUXIMAB
     Route: 065
  206. RITUXIMAB [Suspect]
     Active Substance: RITUXIMAB
     Route: 065
  207. RITUXIMAB [Suspect]
     Active Substance: RITUXIMAB
     Dosage: 2000 MG, 1X/DAY
     Route: 065
  208. RITUXIMAB [Suspect]
     Active Substance: RITUXIMAB
     Dosage: 2 G, 1X/DAY
     Route: 040
  209. RITUXIMAB [Suspect]
     Active Substance: RITUXIMAB
     Route: 040
  210. RITUXIMAB [Suspect]
     Active Substance: RITUXIMAB
     Route: 042
  211. RITUXIMAB [Suspect]
     Active Substance: RITUXIMAB
     Dosage: 2 G, 1X/DAY
     Route: 042
  212. RITUXIMAB [Suspect]
     Active Substance: RITUXIMAB
     Dosage: 1000 MG, 2X/DAY
  213. RITUXIMAB [Suspect]
     Active Substance: RITUXIMAB
     Route: 042
  214. RITUXIMAB [Suspect]
     Active Substance: RITUXIMAB
     Dosage: 2 G, DAILY
     Route: 065
  215. RITUXIMAB [Suspect]
     Active Substance: RITUXIMAB
     Route: 065
  216. RITUXIMAB [Suspect]
     Active Substance: RITUXIMAB
     Route: 040
  217. RITUXIMAB [Suspect]
     Active Substance: RITUXIMAB
     Route: 040
  218. RITUXIMAB [Suspect]
     Active Substance: RITUXIMAB
     Dosage: 365 MG, QD
     Route: 065
  219. RITUXIMAB [Suspect]
     Active Substance: RITUXIMAB
     Dosage: 2000 MG, QD
     Route: 040
  220. RITUXIMAB [Suspect]
     Active Substance: RITUXIMAB
     Dosage: 1000 MG, Q12H
     Route: 040
  221. RITUXIMAB [Suspect]
     Active Substance: RITUXIMAB
     Dosage: 2G, QD
     Route: 065
  222. RITUXIMAB [Suspect]
     Active Substance: RITUXIMAB
     Route: 040
  223. RITUXIMAB [Suspect]
     Active Substance: RITUXIMAB
     Dosage: 1000 MG, BID
     Route: 040
  224. RITUXIMAB [Suspect]
     Active Substance: RITUXIMAB
     Route: 065
  225. RITUXIMAB [Suspect]
     Active Substance: RITUXIMAB
     Route: 065
  226. RITUXIMAB [Suspect]
     Active Substance: RITUXIMAB
     Route: 065
  227. RITUXIMAB [Suspect]
     Active Substance: RITUXIMAB
     Route: 065
  228. RITUXIMAB [Suspect]
     Active Substance: RITUXIMAB
     Route: 065
  229. SULFASALAZINE [Suspect]
     Active Substance: SULFASALAZINE
     Indication: Rheumatoid arthritis
     Route: 065
  230. SULFASALAZINE [Suspect]
     Active Substance: SULFASALAZINE
     Route: 048
  231. SULFASALAZINE [Suspect]
     Active Substance: SULFASALAZINE
     Dosage: UNK, 1X/DAY
     Route: 048
  232. SULFASALAZINE [Suspect]
     Active Substance: SULFASALAZINE
     Route: 048
  233. SULFASALAZINE [Suspect]
     Active Substance: SULFASALAZINE
     Dosage: 1 G
  234. SULFASALAZINE [Suspect]
     Active Substance: SULFASALAZINE
     Dosage: 300 MG
  235. SULFASALAZINE [Suspect]
     Active Substance: SULFASALAZINE
     Dosage: 1000 MG, 2X/DAY
     Route: 048
  236. SULFASALAZINE [Suspect]
     Active Substance: SULFASALAZINE
     Dosage: 2 G, 1X/DAY
  237. SULFASALAZINE [Suspect]
     Active Substance: SULFASALAZINE
     Dosage: 1 DF, 2X/DAY
     Route: 048
  238. SULFASALAZINE [Suspect]
     Active Substance: SULFASALAZINE
     Route: 048
  239. SULFASALAZINE [Suspect]
     Active Substance: SULFASALAZINE
     Dosage: 300 MG, 1X/DAY
     Route: 048
  240. SULFASALAZINE [Suspect]
     Active Substance: SULFASALAZINE
     Dosage: 2 G, 1X/DAY
     Route: 048
  241. SULFASALAZINE [Suspect]
     Active Substance: SULFASALAZINE
     Dosage: 1 G, 2X/DAY
     Route: 048
  242. SULFASALAZINE [Suspect]
     Active Substance: SULFASALAZINE
     Dosage: 1 G, 1X/DAY
  243. SULFASALAZINE [Suspect]
     Active Substance: SULFASALAZINE
     Dosage: 1000 MG, 1X/DAY
     Route: 048
  244. SULFASALAZINE [Suspect]
     Active Substance: SULFASALAZINE
     Dosage: 2 G, 2X/DAY
  245. SULFASALAZINE [Suspect]
     Active Substance: SULFASALAZINE
  246. SULFASALAZINE [Suspect]
     Active Substance: SULFASALAZINE
     Dosage: 2 DF, 2X/DAY
     Route: 048
  247. SULFASALAZINE [Suspect]
     Active Substance: SULFASALAZINE
     Dosage: 2 DF, 2X/DAY
  248. SULFASALAZINE [Suspect]
     Active Substance: SULFASALAZINE
     Dosage: 2 G, 1X/DAY
     Route: 058
  249. SULFASALAZINE [Suspect]
     Active Substance: SULFASALAZINE
     Route: 058
  250. SULFASALAZINE [Suspect]
     Active Substance: SULFASALAZINE
     Route: 058
  251. SULFASALAZINE [Suspect]
     Active Substance: SULFASALAZINE
     Route: 016
  252. SULFASALAZINE [Suspect]
     Active Substance: SULFASALAZINE
     Dosage: 4 MG, 1X/DAY
     Route: 058
  253. SULFASALAZINE [Suspect]
     Active Substance: SULFASALAZINE
     Route: 058
  254. SULFASALAZINE [Suspect]
     Active Substance: SULFASALAZINE
  255. SULFASALAZINE [Suspect]
     Active Substance: SULFASALAZINE
  256. SULFASALAZINE [Suspect]
     Active Substance: SULFASALAZINE
  257. SULFASALAZINE [Suspect]
     Active Substance: SULFASALAZINE
     Route: 048
  258. LEUCOVORIN CALCIUM [Suspect]
     Active Substance: LEUCOVORIN CALCIUM
     Indication: Rheumatoid arthritis
     Route: 065
  259. LEUCOVORIN CALCIUM [Suspect]
     Active Substance: LEUCOVORIN CALCIUM
     Route: 065
  260. LEUCOVORIN CALCIUM [Suspect]
     Active Substance: LEUCOVORIN CALCIUM
     Route: 048
  261. LEUCOVORIN CALCIUM [Suspect]
     Active Substance: LEUCOVORIN CALCIUM
     Route: 058
  262. LEUCOVORIN CALCIUM [Suspect]
     Active Substance: LEUCOVORIN CALCIUM
     Route: 065
  263. LEUCOVORIN CALCIUM [Suspect]
     Active Substance: LEUCOVORIN CALCIUM
  264. LEUCOVORIN CALCIUM [Suspect]
     Active Substance: LEUCOVORIN CALCIUM
     Route: 065
  265. LEUCOVORIN CALCIUM [Suspect]
     Active Substance: LEUCOVORIN CALCIUM
     Route: 048
  266. LEUCOVORIN CALCIUM [Suspect]
     Active Substance: LEUCOVORIN CALCIUM
     Route: 065
  267. LEUCOVORIN CALCIUM [Suspect]
     Active Substance: LEUCOVORIN CALCIUM
     Route: 065
  268. LEUCOVORIN CALCIUM [Suspect]
     Active Substance: LEUCOVORIN CALCIUM
     Route: 065
  269. LEUCOVORIN CALCIUM [Suspect]
     Active Substance: LEUCOVORIN CALCIUM
     Route: 048
  270. LEUCOVORIN CALCIUM [Suspect]
     Active Substance: LEUCOVORIN CALCIUM
     Route: 048
  271. LEUCOVORIN CALCIUM [Suspect]
     Active Substance: LEUCOVORIN CALCIUM
     Route: 065
  272. ACETAMINOPHEN [Suspect]
     Active Substance: ACETAMINOPHEN
     Indication: Rheumatoid arthritis
     Route: 065
  273. ACETAMINOPHEN [Suspect]
     Active Substance: ACETAMINOPHEN
     Route: 065
  274. ACETAMINOPHEN [Suspect]
     Active Substance: ACETAMINOPHEN
     Route: 065
  275. ACETAMINOPHEN [Suspect]
     Active Substance: ACETAMINOPHEN
     Route: 065
  276. ACETAMINOPHEN [Suspect]
     Active Substance: ACETAMINOPHEN
     Route: 065
  277. ACETAMINOPHEN [Suspect]
     Active Substance: ACETAMINOPHEN
     Route: 065
  278. ACETAMINOPHEN [Suspect]
     Active Substance: ACETAMINOPHEN
     Route: 065
  279. ACETAMINOPHEN [Suspect]
     Active Substance: ACETAMINOPHEN
     Route: 065
  280. ACETAMINOPHEN [Suspect]
     Active Substance: ACETAMINOPHEN
     Route: 065
  281. ACETAMINOPHEN AND CODEINE [Suspect]
     Active Substance: ACETAMINOPHEN\CODEINE PHOSPHATE
     Indication: Rheumatoid arthritis
     Route: 065
  282. ACETAMINOPHEN AND CODEINE [Suspect]
     Active Substance: ACETAMINOPHEN\CODEINE PHOSPHATE
     Route: 065
  283. ACETAMINOPHEN AND CODEINE [Suspect]
     Active Substance: ACETAMINOPHEN\CODEINE PHOSPHATE
     Route: 065
  284. ACTEMRA [Suspect]
     Active Substance: TOCILIZUMAB
     Indication: Rheumatoid arthritis
     Route: 058
  285. ACTEMRA [Suspect]
     Active Substance: TOCILIZUMAB
     Indication: Abdominal discomfort
     Route: 058
  286. ACTEMRA [Suspect]
     Active Substance: TOCILIZUMAB
     Route: 065
  287. ACTEMRA [Suspect]
     Active Substance: TOCILIZUMAB
     Route: 065
  288. ACTEMRA [Suspect]
     Active Substance: TOCILIZUMAB
     Route: 058
  289. ACTEMRA [Suspect]
     Active Substance: TOCILIZUMAB
     Route: 058
  290. ACTEMRA [Suspect]
     Active Substance: TOCILIZUMAB
     Route: 065
  291. ACTEMRA [Suspect]
     Active Substance: TOCILIZUMAB
     Route: 061
  292. ACTEMRA [Suspect]
     Active Substance: TOCILIZUMAB
     Route: 065
  293. ACTEMRA [Suspect]
     Active Substance: TOCILIZUMAB
     Route: 065
  294. ACTEMRA [Suspect]
     Active Substance: TOCILIZUMAB
     Dosage: 25 MG, WEEKLY
     Route: 058
  295. ACTEMRA [Suspect]
     Active Substance: TOCILIZUMAB
     Route: 058
  296. ACTEMRA [Suspect]
     Active Substance: TOCILIZUMAB
     Route: 042
  297. ACTEMRA [Suspect]
     Active Substance: TOCILIZUMAB
     Route: 065
  298. ACTEMRA [Suspect]
     Active Substance: TOCILIZUMAB
     Route: 058
  299. ACTEMRA [Suspect]
     Active Substance: TOCILIZUMAB
     Dosage: 25 MG, WEEKLY
     Route: 065
  300. ACTEMRA [Suspect]
     Active Substance: TOCILIZUMAB
     Route: 058
  301. ACTEMRA [Suspect]
     Active Substance: TOCILIZUMAB
     Route: 058
  302. ACTEMRA [Suspect]
     Active Substance: TOCILIZUMAB
     Route: 058
  303. ACTEMRA [Suspect]
     Active Substance: TOCILIZUMAB
     Route: 058
  304. ACTEMRA [Suspect]
     Active Substance: TOCILIZUMAB
     Route: 058
  305. ACTEMRA [Suspect]
     Active Substance: TOCILIZUMAB
     Route: 058
  306. ACTEMRA [Suspect]
     Active Substance: TOCILIZUMAB
     Route: 058
  307. ACTEMRA [Suspect]
     Active Substance: TOCILIZUMAB
     Route: 058
  308. ACTEMRA [Suspect]
     Active Substance: TOCILIZUMAB
     Route: 065
  309. ACTEMRA [Suspect]
     Active Substance: TOCILIZUMAB
     Route: 016
  310. ACTEMRA [Suspect]
     Active Substance: TOCILIZUMAB
     Route: 065
  311. ACTEMRA [Suspect]
     Active Substance: TOCILIZUMAB
     Route: 040
  312. ACTEMRA [Suspect]
     Active Substance: TOCILIZUMAB
     Route: 040
  313. ACTEMRA [Suspect]
     Active Substance: TOCILIZUMAB
     Route: 016
  314. ACTEMRA [Suspect]
     Active Substance: TOCILIZUMAB
     Route: 040
  315. ACTEMRA [Suspect]
     Active Substance: TOCILIZUMAB
     Route: 065
  316. ACTEMRA [Suspect]
     Active Substance: TOCILIZUMAB
     Route: 040
  317. ACTEMRA [Suspect]
     Active Substance: TOCILIZUMAB
     Route: 065
  318. ACTEMRA [Suspect]
     Active Substance: TOCILIZUMAB
     Route: 040
  319. ACTEMRA [Suspect]
     Active Substance: TOCILIZUMAB
     Route: 040
  320. ACTEMRA [Suspect]
     Active Substance: TOCILIZUMAB
     Route: 048
  321. ACTEMRA [Suspect]
     Active Substance: TOCILIZUMAB
     Route: 065
  322. ACTEMRA [Suspect]
     Active Substance: TOCILIZUMAB
     Dosage: 162 MG, WEEKLY
  323. ACTEMRA [Suspect]
     Active Substance: TOCILIZUMAB
     Route: 042
  324. ACTEMRA [Suspect]
     Active Substance: TOCILIZUMAB
     Route: 042
  325. ACTEMRA [Suspect]
     Active Substance: TOCILIZUMAB
     Route: 061
  326. AIMOVIG [Suspect]
     Active Substance: ERENUMAB-AOOE
     Indication: Migraine
     Route: 048
  327. AIMOVIG [Suspect]
     Active Substance: ERENUMAB-AOOE
     Indication: Rheumatoid arthritis
     Route: 048
  328. AIMOVIG [Suspect]
     Active Substance: ERENUMAB-AOOE
     Route: 065
  329. ALENDRONATE SODIUM [Suspect]
     Active Substance: ALENDRONATE SODIUM
     Indication: Rheumatoid arthritis
     Route: 048
  330. ALENDRONATE SODIUM [Suspect]
     Active Substance: ALENDRONATE SODIUM
     Route: 058
  331. ALENDRONATE SODIUM [Suspect]
     Active Substance: ALENDRONATE SODIUM
     Route: 016
  332. ALENDRONATE SODIUM [Suspect]
     Active Substance: ALENDRONATE SODIUM
     Route: 065
  333. ALENDRONATE SODIUM [Suspect]
     Active Substance: ALENDRONATE SODIUM
     Route: 016
  334. ALENDRONATE SODIUM [Suspect]
     Active Substance: ALENDRONATE SODIUM
     Route: 005
  335. ALENDRONATE SODIUM [Suspect]
     Active Substance: ALENDRONATE SODIUM
     Route: 016
  336. ALENDRONATE SODIUM\CHOLECALCIFEROL [Suspect]
     Active Substance: ALENDRONATE SODIUM\CHOLECALCIFEROL
  337. ALENDRONATE SODIUM\CHOLECALCIFEROL [Suspect]
     Active Substance: ALENDRONATE SODIUM\CHOLECALCIFEROL
  338. ALENDRONIC ACID [Suspect]
     Active Substance: ALENDRONIC ACID
     Indication: Rheumatoid arthritis
     Route: 065
  339. ALENDRONIC ACID [Suspect]
     Active Substance: ALENDRONIC ACID
     Route: 048
  340. ALENDRONIC ACID [Suspect]
     Active Substance: ALENDRONIC ACID
     Route: 048
  341. ALENDRONIC ACID [Suspect]
     Active Substance: ALENDRONIC ACID
     Route: 016
  342. ALENDRONIC ACID [Suspect]
     Active Substance: ALENDRONIC ACID
     Route: 048
  343. ALENDRONIC ACID [Suspect]
     Active Substance: ALENDRONIC ACID
     Route: 065
  344. ALENDRONIC ACID [Suspect]
     Active Substance: ALENDRONIC ACID
     Route: 016
  345. ALENDRONATE SODIUM\CHOLECALCIFEROL [Suspect]
     Active Substance: ALENDRONATE SODIUM\CHOLECALCIFEROL
     Indication: Rheumatoid arthritis
     Route: 065
  346. PREDNISONE [Suspect]
     Active Substance: PREDNISONE
     Indication: Rheumatoid arthritis
     Dosage: UNK UNK, QD
     Route: 048
  347. PREDNISONE [Suspect]
     Active Substance: PREDNISONE
     Dosage: 5 MG, QD (1 EVERY 1 DAYS)
     Route: 048
  348. PREDNISONE [Suspect]
     Active Substance: PREDNISONE
     Route: 048
  349. PREDNISONE [Suspect]
     Active Substance: PREDNISONE
     Dosage: 20 MG, 1X/DAY
     Route: 048
  350. PREDNISONE [Suspect]
     Active Substance: PREDNISONE
     Route: 048
  351. PREDNISONE [Suspect]
     Active Substance: PREDNISONE
     Route: 065
  352. PREDNISONE [Suspect]
     Active Substance: PREDNISONE
     Route: 048
  353. PREDNISONE [Suspect]
     Active Substance: PREDNISONE
     Dosage: UNK, 1X/DAY
     Route: 048
  354. PREDNISONE [Suspect]
     Active Substance: PREDNISONE
     Dosage: 1 DF, 1X/DAY
     Route: 048
  355. PREDNISONE [Suspect]
     Active Substance: PREDNISONE
     Route: 058
  356. PREDNISONE [Suspect]
     Active Substance: PREDNISONE
     Route: 048
  357. PREDNISONE [Suspect]
     Active Substance: PREDNISONE
     Dosage: 20 MG, 1X/DAY
     Route: 048
  358. PREDNISONE [Suspect]
     Active Substance: PREDNISONE
     Dosage: UNK, 1X/DAY
     Route: 048
  359. PREDNISONE [Suspect]
     Active Substance: PREDNISONE
     Route: 048
  360. PREDNISONE [Suspect]
     Active Substance: PREDNISONE
     Dosage: 50 MG, 1X/DAY
     Route: 048
  361. TRAMADOL HYDROCHLORIDE [Suspect]
     Active Substance: TRAMADOL HYDROCHLORIDE
     Route: 065
  362. ARAVA [Suspect]
     Active Substance: LEFLUNOMIDE
     Indication: Rheumatoid arthritis
     Route: 065
  363. ARAVA [Suspect]
     Active Substance: LEFLUNOMIDE
     Route: 048
  364. ARAVA [Suspect]
     Active Substance: LEFLUNOMIDE
     Dosage: 20 MILLIGRAM, QD
     Route: 048
  365. ARAVA [Suspect]
     Active Substance: LEFLUNOMIDE
     Dosage: UNK, 1X/DAY
     Route: 065
  366. ARAVA [Suspect]
     Active Substance: LEFLUNOMIDE
     Route: 048
  367. ARAVA [Suspect]
     Active Substance: LEFLUNOMIDE
     Dosage: 20 MG, OD
     Route: 065
  368. ARAVA [Suspect]
     Active Substance: LEFLUNOMIDE
     Route: 065
  369. ARAVA [Suspect]
     Active Substance: LEFLUNOMIDE
     Dosage: 20 MG, 1X/DAY
     Route: 048
  370. ARAVA [Suspect]
     Active Substance: LEFLUNOMIDE
     Route: 065
  371. ARAVA [Suspect]
     Active Substance: LEFLUNOMIDE
     Dosage: 20 MG, 1X/DAY
     Route: 048
  372. ARAVA [Suspect]
     Active Substance: LEFLUNOMIDE
     Route: 048
  373. ASCORBIC ACID\CALCIUM [Suspect]
     Active Substance: ASCORBIC ACID\CALCIUM
     Route: 065
  374. ATOMOXETINE HYDROCHLORIDE [Suspect]
     Active Substance: ATOMOXETINE HYDROCHLORIDE
     Indication: Migraine
     Route: 065
  375. BERINERT [Suspect]
     Active Substance: HUMAN C1-ESTERASE INHIBITOR
  376. BUTRANS [Suspect]
     Active Substance: BUPRENORPHINE
     Route: 065
  377. CALTRATE [Suspect]
     Active Substance: CALCIUM CARBONATE
  378. CALCIUM GLUBIONATE [Suspect]
     Active Substance: CALCIUM GLUBIONATE
     Route: 016
  379. CANDESARTAN [Suspect]
     Active Substance: CANDESARTAN
     Indication: Migraine
     Route: 048
  380. CANDESARTAN [Suspect]
     Active Substance: CANDESARTAN
     Indication: Rheumatoid arthritis
     Route: 048
  381. CANDESARTAN [Suspect]
     Active Substance: CANDESARTAN
     Route: 065
  382. CERTOLIZUMAB PEGOL [Suspect]
     Active Substance: CERTOLIZUMAB PEGOL
     Indication: Rheumatoid arthritis
     Route: 058
  383. CERTOLIZUMAB PEGOL [Suspect]
     Active Substance: CERTOLIZUMAB PEGOL
     Route: 065
  384. CERTOLIZUMAB PEGOL [Suspect]
     Active Substance: CERTOLIZUMAB PEGOL
     Route: 065
  385. CERTOLIZUMAB PEGOL [Suspect]
     Active Substance: CERTOLIZUMAB PEGOL
     Route: 016
  386. CERTOLIZUMAB PEGOL [Suspect]
     Active Substance: CERTOLIZUMAB PEGOL
     Route: 058
  387. CERTOLIZUMAB PEGOL [Suspect]
     Active Substance: CERTOLIZUMAB PEGOL
     Route: 058
  388. CERTOLIZUMAB PEGOL [Suspect]
     Active Substance: CERTOLIZUMAB PEGOL
     Route: 058
  389. CERTOLIZUMAB PEGOL [Suspect]
     Active Substance: CERTOLIZUMAB PEGOL
     Route: 065
  390. CETIRIZINE HYDROCHLORIDE [Suspect]
     Active Substance: CETIRIZINE HYDROCHLORIDE
     Indication: Rheumatoid arthritis
     Route: 048
  391. CETIRIZINE HYDROCHLORIDE [Suspect]
     Active Substance: CETIRIZINE HYDROCHLORIDE
     Route: 048
  392. CETIRIZINE HYDROCHLORIDE [Suspect]
     Active Substance: CETIRIZINE HYDROCHLORIDE
     Route: 065
  393. CETIRIZINE HYDROCHLORIDE [Suspect]
     Active Substance: CETIRIZINE HYDROCHLORIDE
     Route: 065
  394. CETIRIZINE HYDROCHLORIDE [Suspect]
     Active Substance: CETIRIZINE HYDROCHLORIDE
     Route: 065
  395. CETIRIZINE HYDROCHLORIDE [Suspect]
     Active Substance: CETIRIZINE HYDROCHLORIDE
     Route: 065
  396. CETIRIZINE HYDROCHLORIDE [Suspect]
     Active Substance: CETIRIZINE HYDROCHLORIDE
     Route: 065
  397. CETIRIZINE HYDROCHLORIDE [Suspect]
     Active Substance: CETIRIZINE HYDROCHLORIDE
     Route: 048
  398. CETIRIZINE HYDROCHLORIDE [Suspect]
     Active Substance: CETIRIZINE HYDROCHLORIDE
     Route: 048
  399. CETIRIZINE HYDROCHLORIDE [Suspect]
     Active Substance: CETIRIZINE HYDROCHLORIDE
     Route: 048
  400. CETIRIZINE HYDROCHLORIDE [Suspect]
     Active Substance: CETIRIZINE HYDROCHLORIDE
     Route: 065
  401. CETIRIZINE HYDROCHLORIDE [Suspect]
     Active Substance: CETIRIZINE HYDROCHLORIDE
     Route: 065
  402. CETIRIZINE HYDROCHLORIDE [Suspect]
     Active Substance: CETIRIZINE HYDROCHLORIDE
     Route: 048
  403. CETIRIZINE HYDROCHLORIDE [Suspect]
     Active Substance: CETIRIZINE HYDROCHLORIDE
     Route: 065
  404. CETIRIZINE HYDROCHLORIDE [Suspect]
     Active Substance: CETIRIZINE HYDROCHLORIDE
     Route: 048
  405. CETIRIZINE HYDROCHLORIDE [Suspect]
     Active Substance: CETIRIZINE HYDROCHLORIDE
     Route: 065
  406. CETIRIZINE HYDROCHLORIDE [Suspect]
     Active Substance: CETIRIZINE HYDROCHLORIDE
     Route: 065
  407. CETIRIZINE HYDROCHLORIDE [Suspect]
     Active Substance: CETIRIZINE HYDROCHLORIDE
     Route: 065
  408. CETIRIZINE HYDROCHLORIDE [Suspect]
     Active Substance: CETIRIZINE HYDROCHLORIDE
     Route: 065
  409. CETIRIZINE HYDROCHLORIDE [Suspect]
     Active Substance: CETIRIZINE HYDROCHLORIDE
     Route: 065
  410. CETIRIZINE HYDROCHLORIDE [Suspect]
     Active Substance: CETIRIZINE HYDROCHLORIDE
     Route: 065
  411. CETIRIZINE HYDROCHLORIDE [Suspect]
     Active Substance: CETIRIZINE HYDROCHLORIDE
     Route: 065
  412. CETIRIZINE HYDROCHLORIDE [Suspect]
     Active Substance: CETIRIZINE HYDROCHLORIDE
     Route: 065
  413. CETIRIZINE HYDROCHLORIDE [Suspect]
     Active Substance: CETIRIZINE HYDROCHLORIDE
     Route: 016
  414. CETIRIZINE HYDROCHLORIDE [Suspect]
     Active Substance: CETIRIZINE HYDROCHLORIDE
     Route: 065
  415. CETIRIZINE HYDROCHLORIDE [Suspect]
     Active Substance: CETIRIZINE HYDROCHLORIDE
     Route: 065
  416. CETIRIZINE HYDROCHLORIDE [Suspect]
     Active Substance: CETIRIZINE HYDROCHLORIDE
     Route: 065
  417. CETIRIZINE HYDROCHLORIDE [Suspect]
     Active Substance: CETIRIZINE HYDROCHLORIDE
     Route: 065
  418. CETIRIZINE HYDROCHLORIDE [Suspect]
     Active Substance: CETIRIZINE HYDROCHLORIDE
     Route: 065
  419. CETIRIZINE HYDROCHLORIDE [Suspect]
     Active Substance: CETIRIZINE HYDROCHLORIDE
     Route: 065
  420. CHOLOGRAFIN MEGLUMINE [Suspect]
     Active Substance: IODIPAMIDE MEGLUMINE
  421. CIMZIA [Suspect]
     Active Substance: CERTOLIZUMAB PEGOL
     Indication: Rheumatoid arthritis
     Route: 058
  422. CIMZIA [Suspect]
     Active Substance: CERTOLIZUMAB PEGOL
     Indication: Psoriasis
     Route: 058
  423. CIMZIA [Suspect]
     Active Substance: CERTOLIZUMAB PEGOL
     Route: 058
  424. CIMZIA [Suspect]
     Active Substance: CERTOLIZUMAB PEGOL
     Route: 058
  425. CIMZIA [Suspect]
     Active Substance: CERTOLIZUMAB PEGOL
     Route: 058
  426. CIMZIA [Suspect]
     Active Substance: CERTOLIZUMAB PEGOL
     Route: 065
  427. CIMZIA [Suspect]
     Active Substance: CERTOLIZUMAB PEGOL
     Route: 058
  428. CIMZIA [Suspect]
     Active Substance: CERTOLIZUMAB PEGOL
     Route: 058
  429. CIMZIA [Suspect]
     Active Substance: CERTOLIZUMAB PEGOL
     Route: 058
  430. CIMZIA [Suspect]
     Active Substance: CERTOLIZUMAB PEGOL
     Route: 058
  431. CIMZIA [Suspect]
     Active Substance: CERTOLIZUMAB PEGOL
     Route: 058
  432. CORTISONE [Suspect]
     Active Substance: CORTISONE
     Indication: Rheumatoid arthritis
     Route: 058
  433. CORTISONE [Suspect]
     Active Substance: CORTISONE
     Route: 065
  434. CORTISONE ACETATE [Suspect]
     Active Substance: CORTISONE ACETATE
     Indication: Rheumatoid arthritis
     Route: 061
  435. CORTISONE ACETATE [Suspect]
     Active Substance: CORTISONE ACETATE
     Route: 065
  436. CORTISONE ACETATE [Suspect]
     Active Substance: CORTISONE ACETATE
     Route: 061
  437. CORTISONE ACETATE [Suspect]
     Active Substance: CORTISONE ACETATE
     Route: 065
  438. COSENTYX [Suspect]
     Active Substance: SECUKINUMAB
     Indication: Psoriatic arthropathy
     Route: 065
  439. COSENTYX [Suspect]
     Active Substance: SECUKINUMAB
     Indication: Rheumatoid arthritis
     Route: 065
  440. COSENTYX [Suspect]
     Active Substance: SECUKINUMAB
     Route: 065
  441. COSENTYX [Suspect]
     Active Substance: SECUKINUMAB
     Route: 065
  442. COSENTYX [Suspect]
     Active Substance: SECUKINUMAB
     Route: 065
  443. COSENTYX [Suspect]
     Active Substance: SECUKINUMAB
     Route: 005
  444. DESOXIMETASONE [Suspect]
     Active Substance: DESOXIMETASONE
     Indication: Rheumatoid arthritis
     Route: 048
  445. DESOXIMETASONE [Suspect]
     Active Substance: DESOXIMETASONE
     Route: 058
  446. DESOXIMETASONE [Suspect]
     Active Substance: DESOXIMETASONE
     Route: 048
  447. DESOXIMETASONE [Suspect]
     Active Substance: DESOXIMETASONE
     Route: 048
  448. DESOXIMETASONE [Suspect]
     Active Substance: DESOXIMETASONE
     Route: 065
  449. DESOXIMETASONE [Suspect]
     Active Substance: DESOXIMETASONE
     Route: 048
  450. DESOXIMETASONE [Suspect]
     Active Substance: DESOXIMETASONE
     Route: 058
  451. DESOXIMETASONE [Suspect]
     Active Substance: DESOXIMETASONE
     Route: 065
  452. DESOXIMETASONE [Suspect]
     Active Substance: DESOXIMETASONE
     Route: 065
  453. DESOXIMETASONE [Suspect]
     Active Substance: DESOXIMETASONE
     Route: 058
  454. DESOXIMETASONE [Suspect]
     Active Substance: DESOXIMETASONE
     Route: 048
  455. DICLOFENAC SODIUM [Suspect]
     Active Substance: DICLOFENAC SODIUM
     Route: 065
  456. DICLOFENAC SODIUM [Suspect]
     Active Substance: DICLOFENAC SODIUM
     Route: 058
  457. DICLOFENAC SODIUM [Suspect]
     Active Substance: DICLOFENAC SODIUM
     Route: 058
  458. DICLOFENAC SODIUM [Suspect]
     Active Substance: DICLOFENAC SODIUM
     Route: 058
  459. DICLOFENAC SODIUM [Suspect]
     Active Substance: DICLOFENAC SODIUM
     Route: 065
  460. ERELZI [Suspect]
     Active Substance: ETANERCEPT-SZZS
     Indication: Rheumatoid arthritis
     Route: 048
  461. ERELZI [Suspect]
     Active Substance: ETANERCEPT-SZZS
     Route: 058
  462. ERELZI [Suspect]
     Active Substance: ETANERCEPT-SZZS
     Dosage: 50 MG, WEEKLY
     Route: 058
  463. ERELZI [Suspect]
     Active Substance: ETANERCEPT-SZZS
     Route: 065
  464. ERELZI [Suspect]
     Active Substance: ETANERCEPT-SZZS
     Dosage: 50 MG, WEEKLY
     Route: 058
  465. ERELZI [Suspect]
     Active Substance: ETANERCEPT-SZZS
     Route: 065
  466. VITAMINS [Suspect]
     Active Substance: VITAMINS
  467. HYDROCORTISONE [Suspect]
     Active Substance: HYDROCORTISONE
     Route: 065
  468. FLUMETHASONE PIVALATE [Suspect]
     Active Substance: FLUMETHASONE PIVALATE
     Route: 065
  469. FLUMETHASONE PIVALATE [Suspect]
     Active Substance: FLUMETHASONE PIVALATE
     Route: 065
  470. FLUMETHASONE PIVALATE [Suspect]
     Active Substance: FLUMETHASONE PIVALATE
     Route: 065
  471. FLUMETHASONE PIVALATE [Suspect]
     Active Substance: FLUMETHASONE PIVALATE
     Dosage: 20 MILLIGRAM, QD
     Route: 048
  472. FLUMETHASONE PIVALATE [Suspect]
     Active Substance: FLUMETHASONE PIVALATE
     Route: 065
  473. FLUMETHASONE PIVALATE [Suspect]
     Active Substance: FLUMETHASONE PIVALATE
     Dosage: 50 MILLIGRAM, QD
     Route: 065
  474. FLUMETHASONE PIVALATE [Suspect]
     Active Substance: FLUMETHASONE PIVALATE
     Dosage: 10 MILLIGRAM, QD
     Route: 065
  475. FLUMETHASONE PIVALATE [Suspect]
     Active Substance: FLUMETHASONE PIVALATE
     Route: 065
  476. FLUMETHASONE PIVALATE [Suspect]
     Active Substance: FLUMETHASONE PIVALATE
     Dosage: 50 MILLIGRAM, QD
     Route: 048
  477. FLUMETHASONE PIVALATE [Suspect]
     Active Substance: FLUMETHASONE PIVALATE
     Route: 048
  478. FLUMETHASONE PIVALATE [Suspect]
     Active Substance: FLUMETHASONE PIVALATE
     Route: 048
  479. FLUMETHASONE PIVALATE [Suspect]
     Active Substance: FLUMETHASONE PIVALATE
     Route: 048
  480. FLUTICASONE PROPIONATE [Suspect]
     Active Substance: FLUTICASONE PROPIONATE
  481. FOSAMAX [Suspect]
     Active Substance: ALENDRONATE SODIUM
     Indication: Rheumatoid arthritis
     Route: 058
  482. FOSAMAX [Suspect]
     Active Substance: ALENDRONATE SODIUM
     Route: 048
  483. FOSAMAX [Suspect]
     Active Substance: ALENDRONATE SODIUM
     Route: 065
  484. FOSAMAX [Suspect]
     Active Substance: ALENDRONATE SODIUM
     Route: 065
  485. FOSAMAX [Suspect]
     Active Substance: ALENDRONATE SODIUM
     Route: 016
  486. GOLD SODIUM THIOMALATE [Suspect]
     Active Substance: GOLD SODIUM THIOMALATE
     Route: 065
  487. GOLD SODIUM THIOMALATE [Suspect]
     Active Substance: GOLD SODIUM THIOMALATE
     Route: 030
  488. GOLD SODIUM THIOMALATE [Suspect]
     Active Substance: GOLD SODIUM THIOMALATE
     Route: 048
  489. HUMIRA [Suspect]
     Active Substance: ADALIMUMAB
     Indication: Rheumatoid arthritis
     Route: 058
  490. HUMIRA [Suspect]
     Active Substance: ADALIMUMAB
     Route: 058
  491. HUMIRA [Suspect]
     Active Substance: ADALIMUMAB
     Route: 058
  492. HUMIRA [Suspect]
     Active Substance: ADALIMUMAB
     Route: 057
  493. HUMIRA [Suspect]
     Active Substance: ADALIMUMAB
     Route: 058
  494. HUMIRA [Suspect]
     Active Substance: ADALIMUMAB
     Route: 058
  495. HUMIRA [Suspect]
     Active Substance: ADALIMUMAB
     Route: 058
  496. HUMIRA [Suspect]
     Active Substance: ADALIMUMAB
     Route: 065
  497. HYDROCORTISONE ACETATE [Suspect]
     Active Substance: HYDROCORTISONE ACETATE
     Indication: Rheumatoid arthritis
     Route: 065
  498. HYDROCORTISONE ACETATE [Suspect]
     Active Substance: HYDROCORTISONE ACETATE
     Route: 058
  499. HYDROCORTISONE BUTYRATE [Suspect]
     Active Substance: HYDROCORTISONE BUTYRATE
  500. HYDROCORTISONE\NEOMYCIN SULFATE [Suspect]
     Active Substance: HYDROCORTISONE\NEOMYCIN SULFATE
  501. HYDROXYCHLOROQUINE SULFATE [Suspect]
     Active Substance: HYDROXYCHLOROQUINE SULFATE
     Indication: Rheumatoid arthritis
     Route: 048
  502. HYDROXYCHLOROQUINE SULFATE [Suspect]
     Active Substance: HYDROXYCHLOROQUINE SULFATE
     Route: 065
  503. HYDROXYCHLOROQUINE SULFATE [Suspect]
     Active Substance: HYDROXYCHLOROQUINE SULFATE
     Dosage: 40 MG, 1X/DAY
     Route: 065
  504. HYDROXYCHLOROQUINE SULFATE [Suspect]
     Active Substance: HYDROXYCHLOROQUINE SULFATE
     Dosage: 400 MG, 1X/DAY
     Route: 065
  505. HYDROXYCHLOROQUINE SULFATE [Suspect]
     Active Substance: HYDROXYCHLOROQUINE SULFATE
     Route: 065
  506. HYDROXYCHLOROQUINE SULFATE [Suspect]
     Active Substance: HYDROXYCHLOROQUINE SULFATE
     Route: 065
  507. HYDROXYCHLOROQUINE SULFATE [Suspect]
     Active Substance: HYDROXYCHLOROQUINE SULFATE
     Route: 065
  508. HYDROXYCHLOROQUINE SULFATE [Suspect]
     Active Substance: HYDROXYCHLOROQUINE SULFATE
     Dosage: 400 MG, 1X/DAY
     Route: 048
  509. HYDROXYCHLOROQUINE SULFATE [Suspect]
     Active Substance: HYDROXYCHLOROQUINE SULFATE
     Route: 048
  510. HYDROXYCHLOROQUINE SULFATE [Suspect]
     Active Substance: HYDROXYCHLOROQUINE SULFATE
     Dosage: 400 MG, 1X/DAY
     Route: 065
  511. HYDROXYCHLOROQUINE [Suspect]
     Active Substance: HYDROXYCHLOROQUINE
     Indication: Rheumatoid arthritis
     Route: 065
  512. HYDROXYCHLOROQUINE [Suspect]
     Active Substance: HYDROXYCHLOROQUINE
     Dosage: UNK UNK, 1X/DAY
     Route: 048
  513. HYDROXYCHLOROQUINE [Suspect]
     Active Substance: HYDROXYCHLOROQUINE
     Route: 065
  514. HYDROXYCHLOROQUINE [Suspect]
     Active Substance: HYDROXYCHLOROQUINE
     Dosage: UNK UNK, 1X/DAY
     Route: 048
  515. HYDROXYCHLOROQUINE [Suspect]
     Active Substance: HYDROXYCHLOROQUINE
     Dosage: 400 MG, 1X/DAY
     Route: 048
  516. HYDROXYCHLOROQUINE [Suspect]
     Active Substance: HYDROXYCHLOROQUINE
     Dosage: 400 MG, 1X/DAY
     Route: 048
  517. HYDROXYCHLOROQUINE [Suspect]
     Active Substance: HYDROXYCHLOROQUINE
     Dosage: 400 MG, 1X/DAY
     Route: 065
  518. HYDROXYCHLOROQUINE [Suspect]
     Active Substance: HYDROXYCHLOROQUINE
     Dosage: UNK UNK, 1X/DAY
     Route: 058
  519. HYDROXYCHLOROQUINE [Suspect]
     Active Substance: HYDROXYCHLOROQUINE
     Dosage: 400 MG, 1X/DAY
     Route: 048
  520. HYDROXYCHLOROQUINE [Suspect]
     Active Substance: HYDROXYCHLOROQUINE
     Dosage: UNK UNK, 1X/DAY
     Route: 058
  521. HYDROXYCHLOROQUINE [Suspect]
     Active Substance: HYDROXYCHLOROQUINE
     Dosage: 400 MG, 1X/DAY
     Route: 048
  522. HYDROXYCHLOROQUINE [Suspect]
     Active Substance: HYDROXYCHLOROQUINE
     Dosage: 200 MG, 1X/DAY
     Route: 048
  523. HYDROXYCHLOROQUINE [Suspect]
     Active Substance: HYDROXYCHLOROQUINE
     Dosage: 1 DF, 1X/DAY
     Route: 048
  524. HYDROXYCHLOROQUINE [Suspect]
     Active Substance: HYDROXYCHLOROQUINE
     Route: 065
  525. HYDROXYCHLOROQUINE [Suspect]
     Active Substance: HYDROXYCHLOROQUINE
     Route: 065
  526. HYDROXYCHLOROQUINE [Suspect]
     Active Substance: HYDROXYCHLOROQUINE
     Route: 048
  527. HYDROXYCHLOROQUINE [Suspect]
     Active Substance: HYDROXYCHLOROQUINE
  528. HYDROXYCHLOROQUINE [Suspect]
     Active Substance: HYDROXYCHLOROQUINE
     Dosage: UNK UNK, 1X/DAY
     Route: 065
  529. HYDROXYCHLOROQUINE [Suspect]
     Active Substance: HYDROXYCHLOROQUINE
     Dosage: 40 MG, 1X/DAY
  530. HYDROXYCHLOROQUINE [Suspect]
     Active Substance: HYDROXYCHLOROQUINE
  531. HYDROXYCHLOROQUINE [Suspect]
     Active Substance: HYDROXYCHLOROQUINE
     Dosage: 600 MG, DAILY
     Route: 048
  532. HYDROXYCHLOROQUINE [Suspect]
     Active Substance: HYDROXYCHLOROQUINE
     Dosage: 400 MG, 1X/DAY
     Route: 048
  533. HYDROXYCHLOROQUINE [Suspect]
     Active Substance: HYDROXYCHLOROQUINE
     Dosage: 400 MG, 1X/DAY
     Route: 065
  534. IMURAN [Suspect]
     Active Substance: AZATHIOPRINE
  535. DICLOFENAC DIETHYLAMINE [Suspect]
     Active Substance: DICLOFENAC DIETHYLAMINE
  536. ISOPROPYL ALCOHOL [Suspect]
     Active Substance: ISOPROPYL ALCOHOL
  537. ISOPROPYL ALCOHOL [Suspect]
     Active Substance: ISOPROPYL ALCOHOL
  538. ISOPROPYL ALCOHOL [Suspect]
     Active Substance: ISOPROPYL ALCOHOL
  539. KEVZARA [Suspect]
     Active Substance: SARILUMAB
     Route: 065
  540. LAMICTAL [Suspect]
     Active Substance: LAMOTRIGINE
     Indication: Rheumatoid arthritis
     Route: 048
  541. LAMICTAL [Suspect]
     Active Substance: LAMOTRIGINE
     Route: 048
  542. LAMICTAL [Suspect]
     Active Substance: LAMOTRIGINE
     Route: 048
  543. LAMICTAL [Suspect]
     Active Substance: LAMOTRIGINE
     Route: 048
  544. LAMICTAL [Suspect]
     Active Substance: LAMOTRIGINE
     Route: 048
  545. LAMICTAL [Suspect]
     Active Substance: LAMOTRIGINE
     Route: 048
  546. FLUMETHASONE PIVALATE [Suspect]
     Active Substance: FLUMETHASONE PIVALATE
     Route: 065
  547. FLUMETHASONE PIVALATE [Suspect]
     Active Substance: FLUMETHASONE PIVALATE
     Route: 003
  548. MAGNESIUM CITRATE [Suspect]
     Active Substance: MAGNESIUM CITRATE
  549. MEGLUMINE [Suspect]
     Active Substance: MEGLUMINE
  550. MEGLUMINE [Suspect]
     Active Substance: MEGLUMINE
     Route: 040
  551. MYRBETRIQ [Suspect]
     Active Substance: MIRABEGRON
     Dosage: 1 DF, QD
  552. MYRBETRIQ [Suspect]
     Active Substance: MIRABEGRON
     Dosage: UNK, QD
  553. MYRBETRIQ [Suspect]
     Active Substance: MIRABEGRON
     Dosage: 1 DF, QD
  554. NEOMYCIN SULFATE [Suspect]
     Active Substance: NEOMYCIN SULFATE
  555. NICOTINAMIDE [Suspect]
     Active Substance: NIACINAMIDE
  556. ORENCIA [Suspect]
     Active Substance: ABATACEPT
     Indication: Rheumatoid arthritis
     Route: 042
  557. ORENCIA [Suspect]
     Active Substance: ABATACEPT
     Route: 065
  558. ORENCIA [Suspect]
     Active Substance: ABATACEPT
     Route: 042
  559. ORENCIA [Suspect]
     Active Substance: ABATACEPT
     Route: 042
  560. ORENCIA [Suspect]
     Active Substance: ABATACEPT
     Route: 065
  561. ORENCIA [Suspect]
     Active Substance: ABATACEPT
     Dosage: 125 MILLIGRAM, QWK
     Route: 058
  562. ORENCIA [Suspect]
     Active Substance: ABATACEPT
     Route: 058
  563. ORENCIA [Suspect]
     Active Substance: ABATACEPT
     Route: 058
  564. ORENCIA [Suspect]
     Active Substance: ABATACEPT
     Route: 065
  565. ORENCIA [Suspect]
     Active Substance: ABATACEPT
     Route: 042
  566. ORENCIA [Suspect]
     Active Substance: ABATACEPT
     Route: 040
  567. ORENCIA [Suspect]
     Active Substance: ABATACEPT
     Route: 040
  568. ORENCIA [Suspect]
     Active Substance: ABATACEPT
     Route: 040
  569. ORENCIA [Suspect]
     Active Substance: ABATACEPT
     Route: 065
  570. ORENCIA [Suspect]
     Active Substance: ABATACEPT
     Route: 065
  571. ORENCIA [Suspect]
     Active Substance: ABATACEPT
     Dosage: 120 MG, WEEKLY
     Route: 058
  572. ORENCIA [Suspect]
     Active Substance: ABATACEPT
     Route: 042
  573. ORENCIA [Suspect]
     Active Substance: ABATACEPT
     Route: 042
  574. OTEZLA [Suspect]
     Active Substance: APREMILAST
     Indication: Rheumatoid arthritis
     Route: 065
  575. OTEZLA [Suspect]
     Active Substance: APREMILAST
     Dosage: 6 MILLIGRAM, QD
  576. OTEZLA [Suspect]
     Active Substance: APREMILAST
  577. OXYCODONE [Suspect]
     Active Substance: OXYCODONE
  578. OXYCODONE [Suspect]
     Active Substance: OXYCODONE
  579. ACETAMINOPHEN\CODEINE PHOSPHATE [Suspect]
     Active Substance: ACETAMINOPHEN\CODEINE PHOSPHATE
     Indication: Rheumatoid arthritis
     Route: 065
  580. PANADOL [Suspect]
     Active Substance: ACETAMINOPHEN
     Indication: Rheumatoid arthritis
     Route: 065
  581. PANADOL [Suspect]
     Active Substance: ACETAMINOPHEN
     Route: 065
  582. DICLOFENAC DIETHYLAMINE [Suspect]
     Active Substance: DICLOFENAC DIETHYLAMINE
     Route: 058
  583. PERIOGARD [Suspect]
     Active Substance: CHLORHEXIDINE GLUCONATE
     Route: 002
  584. PERIOGARD [Suspect]
     Active Substance: CHLORHEXIDINE GLUCONATE
     Route: 061
  585. PHENYLEPHRINE HYDROCHLORIDE [Suspect]
     Active Substance: PHENYLEPHRINE HYDROCHLORIDE
     Indication: Rheumatoid arthritis
  586. PHOSPHORUS [Suspect]
     Active Substance: PHOSPHORUS
     Indication: Rheumatoid arthritis
  587. PHTHALYLSULFATHIAZOLE [Suspect]
     Active Substance: PHTHALYLSULFATHIAZOLE
     Indication: Rheumatoid arthritis
     Route: 058
  588. PHTHALYLSULFATHIAZOLE [Suspect]
     Active Substance: PHTHALYLSULFATHIAZOLE
     Route: 048
  589. PHTHALYLSULFATHIAZOLE [Suspect]
     Active Substance: PHTHALYLSULFATHIAZOLE
     Route: 058
  590. PHTHALYLSULFATHIAZOLE [Suspect]
     Active Substance: PHTHALYLSULFATHIAZOLE
     Dosage: 1000 MG, 2X/DAY
     Route: 048
  591. PHTHALYLSULFATHIAZOLE [Suspect]
     Active Substance: PHTHALYLSULFATHIAZOLE
     Route: 065
  592. PHTHALYLSULFATHIAZOLE [Suspect]
     Active Substance: PHTHALYLSULFATHIAZOLE
     Dosage: 2000 MG, 1X/DAY
     Route: 048
  593. PHTHALYLSULFATHIAZOLE [Suspect]
     Active Substance: PHTHALYLSULFATHIAZOLE
     Route: 065
  594. PHTHALYLSULFATHIAZOLE [Suspect]
     Active Substance: PHTHALYLSULFATHIAZOLE
     Route: 040
  595. PLAQUENIL [Suspect]
     Active Substance: HYDROXYCHLOROQUINE SULFATE
     Indication: Rheumatoid arthritis
     Route: 048
  596. PLAQUENIL [Suspect]
     Active Substance: HYDROXYCHLOROQUINE SULFATE
     Route: 048
  597. PREDNISONE [Suspect]
     Active Substance: PREDNISONE
     Indication: Rheumatoid arthritis
     Dosage: 20 MG, 1X/DAY
     Route: 048
  598. PREDNISONE [Suspect]
     Active Substance: PREDNISONE
     Dosage: 50 MG, 1X/DAY
     Route: 048
  599. PREDNISONE [Suspect]
     Active Substance: PREDNISONE
     Route: 065
  600. PREDNISONE [Suspect]
     Active Substance: PREDNISONE
     Route: 065
  601. PREDNISONE [Suspect]
     Active Substance: PREDNISONE
     Dosage: UNK UNK, QD
     Route: 065
  602. PREDNISONE [Suspect]
     Active Substance: PREDNISONE
     Dosage: 50 MG, 1X/DAY
     Route: 048
  603. PREDNISONE [Suspect]
     Active Substance: PREDNISONE
     Dosage: 20 MG, 1X/DAY
     Route: 048
  604. PREDNISONE [Suspect]
     Active Substance: PREDNISONE
     Route: 048
  605. PREDNISONE [Suspect]
     Active Substance: PREDNISONE
     Route: 065
  606. PREDNISONE [Suspect]
     Active Substance: PREDNISONE
     Route: 065
  607. PREDNISONE [Suspect]
     Active Substance: PREDNISONE
     Route: 048
  608. PREDNISONE [Suspect]
     Active Substance: PREDNISONE
     Route: 065
  609. PREDNISONE [Suspect]
     Active Substance: PREDNISONE
     Route: 048
  610. PREDNISONE [Suspect]
     Active Substance: PREDNISONE
     Dosage: 50 MG, 1X/DAY
     Route: 065
  611. PREDNISONE [Suspect]
     Active Substance: PREDNISONE
     Dosage: 20 MG, 1X/DAY
     Route: 065
  612. PREDNISONE [Suspect]
     Active Substance: PREDNISONE
     Dosage: 50 MG, 1X/DAY
     Route: 048
  613. PREDNISONE [Suspect]
     Active Substance: PREDNISONE
     Route: 048
  614. PREPARATION H (COCOA BUTTER\PHENYLEPHRINE HYDROCHLORIDE) [Suspect]
     Active Substance: COCOA BUTTER\PHENYLEPHRINE HYDROCHLORIDE
  615. RAMIPRIL [Suspect]
     Active Substance: RAMIPRIL
     Indication: Rheumatoid arthritis
  616. RAMIPRIL [Suspect]
     Active Substance: RAMIPRIL
     Route: 016
  617. RAMIPRIL [Suspect]
     Active Substance: RAMIPRIL
     Route: 040
  618. CETIRIZINE HYDROCHLORIDE\PSEUDOEPHEDRINE HYDROCHLORIDE [Suspect]
     Active Substance: CETIRIZINE HYDROCHLORIDE\PSEUDOEPHEDRINE HYDROCHLORIDE
     Indication: Rheumatoid arthritis
     Route: 042
  619. CETIRIZINE HYDROCHLORIDE\PSEUDOEPHEDRINE HYDROCHLORIDE [Suspect]
     Active Substance: CETIRIZINE HYDROCHLORIDE\PSEUDOEPHEDRINE HYDROCHLORIDE
  620. CETIRIZINE HYDROCHLORIDE\PSEUDOEPHEDRINE HYDROCHLORIDE [Suspect]
     Active Substance: CETIRIZINE HYDROCHLORIDE\PSEUDOEPHEDRINE HYDROCHLORIDE
     Route: 040
  621. CETIRIZINE HYDROCHLORIDE\PSEUDOEPHEDRINE HYDROCHLORIDE [Suspect]
     Active Substance: CETIRIZINE HYDROCHLORIDE\PSEUDOEPHEDRINE HYDROCHLORIDE
  622. CETIRIZINE HYDROCHLORIDE\PSEUDOEPHEDRINE HYDROCHLORIDE [Suspect]
     Active Substance: CETIRIZINE HYDROCHLORIDE\PSEUDOEPHEDRINE HYDROCHLORIDE
     Route: 040
  623. REMICADE [Suspect]
     Active Substance: INFLIXIMAB
     Indication: Rheumatoid arthritis
     Route: 042
  624. REMICADE [Suspect]
     Active Substance: INFLIXIMAB
     Route: 042
  625. REMICADE [Suspect]
     Active Substance: INFLIXIMAB
     Route: 065
  626. REMICADE [Suspect]
     Active Substance: INFLIXIMAB
     Dosage: 500 MG, 1X/DAY
     Route: 042
  627. REMICADE [Suspect]
     Active Substance: INFLIXIMAB
     Route: 058
  628. REMICADE [Suspect]
     Active Substance: INFLIXIMAB
     Dosage: 500 MG, 1X/DAY
     Route: 042
  629. REMICADE [Suspect]
     Active Substance: INFLIXIMAB
     Route: 042
  630. REMICADE [Suspect]
     Active Substance: INFLIXIMAB
     Route: 040
  631. REMICADE [Suspect]
     Active Substance: INFLIXIMAB
     Route: 040
  632. REMICADE [Suspect]
     Active Substance: INFLIXIMAB
     Dosage: UNK, DAILY
     Route: 040
  633. REMICADE [Suspect]
     Active Substance: INFLIXIMAB
     Route: 040
  634. REMICADE [Suspect]
     Active Substance: INFLIXIMAB
     Route: 042
  635. REMICADE [Suspect]
     Active Substance: INFLIXIMAB
     Dosage: 500 MG, 1X/DAY
     Route: 058
  636. REMICADE [Suspect]
     Active Substance: INFLIXIMAB
  637. REMICADE [Suspect]
     Active Substance: INFLIXIMAB
     Route: 042
  638. REMICADE [Suspect]
     Active Substance: INFLIXIMAB
     Dosage: 500 MG, 1X/DAY
     Route: 058
  639. RITUXAN [Suspect]
     Active Substance: RITUXIMAB
     Indication: Rheumatoid arthritis
     Dosage: 1000 MG, 2X/DAY
     Route: 065
     Dates: start: 201304, end: 201308
  640. RITUXAN [Suspect]
     Active Substance: RITUXIMAB
     Dosage: 1 G, 2X/DAY
     Route: 042
  641. DIETARY SUPPLEMENT\HERBALS [Suspect]
     Active Substance: DIETARY SUPPLEMENT\HERBALS
  642. ASCORBIC ACID [Suspect]
     Active Substance: ASCORBIC ACID
  643. SIMPONI [Suspect]
     Active Substance: GOLIMUMAB
     Indication: Rheumatoid arthritis
     Route: 065
  644. SIMPONI [Suspect]
     Active Substance: GOLIMUMAB
     Indication: Prostatic specific antigen
     Route: 058
  645. SIMPONI [Suspect]
     Active Substance: GOLIMUMAB
     Route: 065
  646. SIMPONI [Suspect]
     Active Substance: GOLIMUMAB
     Route: 058
  647. SIMPONI [Suspect]
     Active Substance: GOLIMUMAB
     Route: 058
  648. SODIUM AUROTIOSULFATE [Suspect]
     Active Substance: SODIUM AUROTIOSULFATE
     Route: 030
  649. SULFAMETHOXAZOLE [Suspect]
     Active Substance: SULFAMETHOXAZOLE
  650. TOCILIZUMAB [Suspect]
     Active Substance: TOCILIZUMAB
     Indication: Rheumatoid arthritis
     Route: 042
  651. TOCILIZUMAB [Suspect]
     Active Substance: TOCILIZUMAB
     Route: 065
  652. TOCILIZUMAB [Suspect]
     Active Substance: TOCILIZUMAB
     Route: 058
  653. TOCILIZUMAB [Suspect]
     Active Substance: TOCILIZUMAB
     Route: 058
  654. TOCILIZUMAB [Suspect]
     Active Substance: TOCILIZUMAB
     Route: 042
  655. TOCILIZUMAB [Suspect]
     Active Substance: TOCILIZUMAB
     Route: 065
  656. TOCILIZUMAB [Suspect]
     Active Substance: TOCILIZUMAB
     Route: 040
  657. TOCILIZUMAB [Suspect]
     Active Substance: TOCILIZUMAB
     Route: 040
  658. TOCILIZUMAB [Suspect]
     Active Substance: TOCILIZUMAB
     Route: 065
  659. TOCILIZUMAB [Suspect]
     Active Substance: TOCILIZUMAB
     Dosage: 10 MG, QD
     Route: 065
  660. TOCILIZUMAB [Suspect]
     Active Substance: TOCILIZUMAB
     Dosage: 10 MG, Q12H
     Route: 065
  661. TOCILIZUMAB [Suspect]
     Active Substance: TOCILIZUMAB
     Dosage: 10 MG, BID
     Route: 065
  662. TOCILIZUMAB [Suspect]
     Active Substance: TOCILIZUMAB
     Dosage: 5 MG, BID
     Route: 065
  663. TOPIRAMATE [Suspect]
     Active Substance: TOPIRAMATE
  664. TOPIRAMATE [Suspect]
     Active Substance: TOPIRAMATE
     Dosage: 25 MG, 1X/DAY
     Route: 065
  665. TOPIRAMATE [Suspect]
     Active Substance: TOPIRAMATE
     Dosage: 3 MG, 1X/DAY
     Route: 065
  666. TOPIRAMATE [Suspect]
     Active Substance: TOPIRAMATE
     Dosage: 25 MG, 1X/DAY
     Route: 065
  667. TRAMADOL HYDROCHLORIDE [Suspect]
     Active Substance: TRAMADOL HYDROCHLORIDE
     Indication: Rheumatoid arthritis
     Route: 065
  668. TRAMADOL HYDROCHLORIDE [Suspect]
     Active Substance: TRAMADOL HYDROCHLORIDE
     Route: 013
  669. TRAMADOL HYDROCHLORIDE [Suspect]
     Active Substance: TRAMADOL HYDROCHLORIDE
     Dosage: 20 MG, QD
     Route: 065
  670. TRAMADOL HYDROCHLORIDE [Suspect]
     Active Substance: TRAMADOL HYDROCHLORIDE
     Dosage: 20 MG, QD
     Route: 065
  671. TRAZODONE [Suspect]
     Active Substance: TRAZODONE HYDROCHLORIDE
     Dosage: 1 DF, 1X/DAY
  672. TRETINOIN [Suspect]
     Active Substance: TRETINOIN
     Route: 065
  673. SULFAMETHOXAZOLE\TRIMETHOPRIM [Suspect]
     Active Substance: SULFAMETHOXAZOLE\TRIMETHOPRIM
     Route: 065
  674. THIAMINE HYDROCHLORIDE [Suspect]
     Active Substance: THIAMINE HYDROCHLORIDE
  675. TRIAMCINOLONE ACETONIDE [Suspect]
     Active Substance: TRIAMCINOLONE ACETONIDE
     Indication: Rheumatoid arthritis
     Route: 035
  676. TRIAMCINOLONE ACETONIDE [Suspect]
     Active Substance: TRIAMCINOLONE ACETONIDE
     Route: 035
  677. RETINOL [Suspect]
     Active Substance: RETINOL
  678. DICLOFENAC [Suspect]
     Active Substance: DICLOFENAC
  679. DICLOFENAC DIETHYLAMINE [Suspect]
     Active Substance: DICLOFENAC DIETHYLAMINE
  680. BERINERT [Suspect]
     Active Substance: HUMAN C1-ESTERASE INHIBITOR
  681. BOTULINUM TOXIN TYPE A [Suspect]
     Active Substance: BOTULINUM TOXIN TYPE A
     Route: 065
  682. DICLOFENAC SODIUM [Suspect]
     Active Substance: DICLOFENAC SODIUM
     Route: 065
  683. ACETAMINOPHEN\TRAMADOL HYDROCHLORIDE [Suspect]
     Active Substance: ACETAMINOPHEN\TRAMADOL HYDROCHLORIDE
     Route: 065
  684. DICLOFENAC POTASSIUM [Suspect]
     Active Substance: DICLOFENAC POTASSIUM
     Route: 065
  685. DICLOFENAC POTASSIUM [Suspect]
     Active Substance: DICLOFENAC POTASSIUM
     Route: 065
  686. DICLOFENAC POTASSIUM [Suspect]
     Active Substance: DICLOFENAC POTASSIUM
     Route: 065
  687. ASCORBIC ACID [Suspect]
     Active Substance: ASCORBIC ACID
  688. CELEBREX [Suspect]
     Active Substance: CELECOXIB
     Dosage: 2 DF, 1X/DAY (QD)
     Route: 048
  689. CELEBREX [Suspect]
     Active Substance: CELECOXIB
     Dosage: 1 DF, 1X/DAY (QD)
     Route: 048
  690. CELEBREX [Suspect]
     Active Substance: CELECOXIB
     Route: 065
  691. CELEBREX [Suspect]
     Active Substance: CELECOXIB
     Route: 065
  692. CELEBREX [Suspect]
     Active Substance: CELECOXIB
     Route: 065
  693. CELEBREX [Suspect]
     Active Substance: CELECOXIB
     Route: 065
  694. CHLORHEXIDINE GLUCONATE [Suspect]
     Active Substance: CHLORHEXIDINE GLUCONATE
     Route: 065
  695. CHLORHEXIDINE GLUCONATE [Suspect]
     Active Substance: CHLORHEXIDINE GLUCONATE
     Route: 065
  696. CHLORHEXIDINE GLUCONATE [Suspect]
     Active Substance: CHLORHEXIDINE GLUCONATE
     Route: 065
  697. CHOLECALCIFEROL [Suspect]
     Active Substance: CHOLECALCIFEROL
     Route: 065
  698. DICLOFENAC [Suspect]
     Active Substance: DICLOFENAC
     Route: 065
  699. DOMPERIDONE MALEATE [Suspect]
     Active Substance: DOMPERIDONE MALEATE
     Route: 065
  700. MENTHOL\ZINC OXIDE [Suspect]
     Active Substance: MENTHOL\ZINC OXIDE
     Route: 065
  701. CLIOQUINOL\FLUMETHASONE [Suspect]
     Active Substance: CLIOQUINOL\FLUMETHASONE
     Route: 065
  702. TETRACYCLINE HYDROCHLORIDE [Suspect]
     Active Substance: TETRACYCLINE HYDROCHLORIDE
     Indication: Rheumatoid arthritis
     Route: 065
  703. MINOCYCLINE [Suspect]
     Active Substance: MINOCYCLINE HYDROCHLORIDE
     Indication: Rheumatoid arthritis
     Route: 065
  704. MYOCHRYSINE [Suspect]
     Active Substance: GOLD SODIUM THIOMALATE
     Indication: Rheumatoid arthritis
     Route: 030
  705. NUCALA [Suspect]
     Active Substance: MEPOLIZUMAB
     Route: 065
  706. NAPROXEN [Suspect]
     Active Substance: NAPROXEN
     Route: 065
  707. NAPROXEN [Suspect]
     Active Substance: NAPROXEN
     Route: 065
  708. NAPROXEN [Suspect]
     Active Substance: NAPROXEN
     Route: 065
  709. OXYCODONE TEREPHTHALATE [Suspect]
     Active Substance: OXYCODONE TEREPHTHALATE
  710. RANITIDINE [Suspect]
     Active Substance: RANITIDINE
     Route: 065
  711. SARILUMAB [Suspect]
     Active Substance: SARILUMAB
     Route: 065
  712. SIRUKUMAB [Suspect]
     Active Substance: SIRUKUMAB
     Route: 065
  713. SIRUKUMAB [Suspect]
     Active Substance: SIRUKUMAB
     Route: 065
  714. SIRUKUMAB [Suspect]
     Active Substance: SIRUKUMAB
     Route: 065
  715. SIRUKUMAB [Suspect]
     Active Substance: SIRUKUMAB
     Route: 048
  716. SIRUKUMAB [Suspect]
     Active Substance: SIRUKUMAB
     Route: 065
  717. GOLD SODIUM THIOMALATE [Suspect]
     Active Substance: GOLD SODIUM THIOMALATE
     Route: 065
  718. GOLD SODIUM THIOMALATE [Suspect]
     Active Substance: GOLD SODIUM THIOMALATE
     Route: 065
  719. GOLD SODIUM THIOMALATE [Suspect]
     Active Substance: GOLD SODIUM THIOMALATE
     Route: 048
  720. GOLD SODIUM THIOMALATE [Suspect]
     Active Substance: GOLD SODIUM THIOMALATE
     Route: 065
  721. STELARA [Suspect]
     Active Substance: USTEKINUMAB
     Indication: Rheumatoid arthritis
     Route: 058
  722. TETRACYCLINE HYDROCHLORIDE [Suspect]
     Active Substance: TETRACYCLINE HYDROCHLORIDE
     Indication: Rheumatoid arthritis
  723. CALCIUM ASCORBATE [Suspect]
     Active Substance: CALCIUM ASCORBATE
     Route: 065
  724. CALCIUM ASCORBATE [Suspect]
     Active Substance: CALCIUM ASCORBATE
     Route: 065
  725. CALCIUM CARBONATE\CHOLECALCIFEROL [Suspect]
     Active Substance: CALCIUM CARBONATE\CHOLECALCIFEROL
  726. CALCIUM CITRATE [Suspect]
     Active Substance: CALCIUM CITRATE
     Route: 065
  727. HYRIMOZ [Suspect]
     Active Substance: ADALIMUMAB-ADAZ
     Indication: Rheumatoid arthritis
  728. CAFFEINE\CHLORPHENIRAMINE\PHENYLPROPANOLAMINE [Suspect]
     Active Substance: CAFFEINE\CHLORPHENIRAMINE\PHENYLPROPANOLAMINE
  729. CAFFEINE\CHLORPHENIRAMINE\PHENYLPROPANOLAMINE [Suspect]
     Active Substance: CAFFEINE\CHLORPHENIRAMINE\PHENYLPROPANOLAMINE
  730. HYDROCORTISONE SODIUM SUCCINATE [Suspect]
     Active Substance: HYDROCORTISONE SODIUM SUCCINATE
     Route: 049
  731. HYDROCORTISONE SODIUM SUCCINATE [Suspect]
     Active Substance: HYDROCORTISONE SODIUM SUCCINATE
     Route: 048
  732. METHYLPREDNISOLONE SODIUM SUCCINATE [Suspect]
     Active Substance: METHYLPREDNISOLONE SODIUM SUCCINATE
  733. METHYLPREDNISOLONE SODIUM SUCCINATE [Suspect]
     Active Substance: METHYLPREDNISOLONE SODIUM SUCCINATE
     Route: 065
  734. APREMILAST [Suspect]
     Active Substance: APREMILAST
     Indication: Rheumatoid arthritis
     Dosage: 6 MILLIGRAM, QD
  735. APREMILAST [Suspect]
     Active Substance: APREMILAST
  736. APREMILAST [Suspect]
     Active Substance: APREMILAST
     Dosage: 6 MILLIGRAM, QD
  737. APREMILAST [Suspect]
     Active Substance: APREMILAST
     Dosage: 3 MILLIGRAM, BID
  738. APREMILAST [Suspect]
     Active Substance: APREMILAST
  739. APREMILAST [Suspect]
     Active Substance: APREMILAST
  740. LEFLUNOMIDE [Suspect]
     Active Substance: LEFLUNOMIDE
     Indication: Rheumatoid arthritis
     Dosage: 20 MG, 1X/DAY
     Route: 065
  741. AZATHIOPRINE [Suspect]
     Active Substance: AZATHIOPRINE
  742. PANTOPRAZOLE SODIUM ANHYDROUS [Suspect]
     Active Substance: PANTOPRAZOLE SODIUM ANHYDROUS
  743. CALCIUM GLUCONATE [Suspect]
     Active Substance: CALCIUM GLUCONATE
  744. CALCIUM GLUCONATE [Suspect]
     Active Substance: CALCIUM GLUCONATE
     Route: 016
  745. CELECOXIB [Suspect]
     Active Substance: CELECOXIB
     Dosage: 2 DOSAGE FORM (1 EVERY 1 DAYS)
     Route: 048
  746. CELECOXIB [Suspect]
     Active Substance: CELECOXIB
     Route: 058
  747. CELECOXIB [Suspect]
     Active Substance: CELECOXIB
     Dosage: 1 DOSAGE FORM (1 EVERY 1 DAYS)
     Route: 065
  748. CELECOXIB [Suspect]
     Active Substance: CELECOXIB
     Route: 065
  749. CHLORHEXIDINE [Suspect]
     Active Substance: CHLORHEXIDINE
  750. CHLORHEXIDINE GLUCONATE\ISOPROPYL ALCOHOL [Suspect]
     Active Substance: CHLORHEXIDINE GLUCONATE\ISOPROPYL ALCOHOL
     Route: 048
  751. CHLORHEXIDINE GLUCONATE\ISOPROPYL ALCOHOL [Suspect]
     Active Substance: CHLORHEXIDINE GLUCONATE\ISOPROPYL ALCOHOL
     Route: 065
  752. DICLOFENAC POTASSIUM [Suspect]
     Active Substance: DICLOFENAC POTASSIUM
     Route: 065
  753. DILTIAZEM HYDROCHLORIDE [Suspect]
     Active Substance: DILTIAZEM HYDROCHLORIDE
     Route: 040
  754. DILTIAZEM HYDROCHLORIDE [Suspect]
     Active Substance: DILTIAZEM HYDROCHLORIDE
     Route: 065
  755. DOXYCYCLINE HYCLATE [Suspect]
     Active Substance: DOXYCYCLINE HYCLATE
     Route: 065
  756. SULFISOMIDINE [Suspect]
     Active Substance: SULFISOMIDINE
  757. ENTYVIO [Suspect]
     Active Substance: VEDOLIZUMAB
     Route: 065
  758. FRAMYCETIN SULFATE [Suspect]
     Active Substance: FRAMYCETIN SULFATE
     Route: 065
  759. GOLIMUMAB [Suspect]
     Active Substance: GOLIMUMAB
     Indication: Rheumatoid arthritis
     Route: 065
  760. GOLIMUMAB [Suspect]
     Active Substance: GOLIMUMAB
     Route: 058
  761. GRAMICIDIN [Suspect]
     Active Substance: GRAMICIDIN
     Route: 065
  762. CLONIDINE HYDROCHLORIDE [Suspect]
     Active Substance: CLONIDINE HYDROCHLORIDE
     Route: 065
  763. LYRICA [Suspect]
     Active Substance: PREGABALIN
  764. MESALAMINE [Suspect]
     Active Substance: MESALAMINE
  765. MORPHINE SULFATE [Suspect]
     Active Substance: MORPHINE SULFATE
     Route: 065
  766. MYCOPHENOLATE MOFETIL [Suspect]
     Active Substance: MYCOPHENOLATE MOFETIL
     Route: 065
  767. NITROFURAZONE [Suspect]
     Active Substance: NITROFURAZONE
     Route: 048
  768. NITROFURAZONE [Suspect]
     Active Substance: NITROFURAZONE
     Route: 048
  769. OXYCODONE TEREPHTHALATE [Suspect]
     Active Substance: OXYCODONE TEREPHTHALATE
     Route: 065
  770. PARA-AMINOSALICYLIC ACID [Suspect]
     Active Substance: AMINOSALICYLIC ACID
     Route: 065
  771. PARA-AMINOSALICYLIC ACID [Suspect]
     Active Substance: AMINOSALICYLIC ACID
     Dosage: 2000 MG, 1X/DAY
     Route: 048
  772. PARA-AMINOSALICYLIC ACID [Suspect]
     Active Substance: AMINOSALICYLIC ACID
     Dosage: 1000 MG, 1X/DAY
     Route: 048
  773. PARA-AMINOSALICYLIC ACID [Suspect]
     Active Substance: AMINOSALICYLIC ACID
     Route: 065
  774. PARA-AMINOSALICYLIC ACID [Suspect]
     Active Substance: AMINOSALICYLIC ACID
     Route: 016
  775. PARA-AMINOSALICYLIC ACID [Suspect]
     Active Substance: AMINOSALICYLIC ACID
     Dosage: 2000 MG, 1X/DAY
     Route: 058
  776. PSEUDOEPHEDRINE HYDROCHLORIDE [Suspect]
     Active Substance: PSEUDOEPHEDRINE HYDROCHLORIDE
     Route: 065
  777. PSEUDOEPHEDRINE HYDROCHLORIDE [Suspect]
     Active Substance: PSEUDOEPHEDRINE HYDROCHLORIDE
     Route: 065
  778. PSEUDOEPHEDRINE HYDROCHLORIDE [Suspect]
     Active Substance: PSEUDOEPHEDRINE HYDROCHLORIDE
     Route: 065
  779. PSEUDOEPHEDRINE HYDROCHLORIDE [Suspect]
     Active Substance: PSEUDOEPHEDRINE HYDROCHLORIDE
     Route: 065
  780. QUETIAPINE FUMARATE [Suspect]
     Active Substance: QUETIAPINE FUMARATE
     Route: 065
  781. SALICYLIC ACID [Suspect]
     Active Substance: SALICYLIC ACID
  782. SODIUM FLUORIDE [Suspect]
     Active Substance: SODIUM FLUORIDE
     Route: 065
  783. THYMOL [Suspect]
     Active Substance: THYMOL
     Route: 048
  784. THYMOL [Suspect]
     Active Substance: THYMOL
     Route: 048
  785. TRICLOSAN [Suspect]
     Active Substance: TRICLOSAN
     Route: 065
  786. TYROTHRICIN [Suspect]
     Active Substance: TYROTHRICIN
     Route: 065
  787. VITAMIN D3 [Suspect]
     Active Substance: CHOLECALCIFEROL
     Route: 065
  788. VITAMIN D3 [Suspect]
     Active Substance: CHOLECALCIFEROL
     Route: 058
  789. VITAMIN D3 [Suspect]
     Active Substance: CHOLECALCIFEROL
     Route: 016
  790. ALENDRONATE SODIUM [Suspect]
     Active Substance: ALENDRONATE SODIUM
     Indication: Rheumatoid arthritis
     Route: 065
  791. ALENDRONATE SODIUM [Suspect]
     Active Substance: ALENDRONATE SODIUM
     Route: 048
  792. ALENDRONATE SODIUM [Suspect]
     Active Substance: ALENDRONATE SODIUM
     Route: 065
  793. ALENDRONATE SODIUM [Suspect]
     Active Substance: ALENDRONATE SODIUM
     Route: 048
  794. ALENDRONATE SODIUM [Suspect]
     Active Substance: ALENDRONATE SODIUM
     Route: 016
  795. METFORMIN HYDROCHLORIDE [Suspect]
     Active Substance: METFORMIN HYDROCHLORIDE
  796. VOLTARENE (DICLOFENAC SODIUM) [Suspect]
     Active Substance: DICLOFENAC SODIUM
     Indication: Rheumatoid arthritis
     Route: 065
  797. VOLTARENE (DICLOFENAC SODIUM) [Suspect]
     Active Substance: DICLOFENAC SODIUM
     Route: 058
  798. HYDROCORTISONE [Suspect]
     Active Substance: HYDROCORTISONE
     Route: 065
  799. HYDROCORTISONE [Suspect]
     Active Substance: HYDROCORTISONE
     Route: 065
  800. ATOMOXETINE [Suspect]
     Active Substance: ATOMOXETINE
     Indication: Migraine
     Route: 065
  801. ATOMOXETINE [Suspect]
     Active Substance: ATOMOXETINE
     Dosage: 2 DF, 1X/DAY
     Route: 065
  802. ATOMOXETINE [Suspect]
     Active Substance: ATOMOXETINE
     Dosage: 1 DF, 1X/DAY
     Route: 065
  803. ATOMOXETINE [Suspect]
     Active Substance: ATOMOXETINE
     Dosage: 2 DF, 1X/DAY
     Route: 065
  804. ATOMOXETINE [Suspect]
     Active Substance: ATOMOXETINE
     Dosage: 1 DF, 1X/DAY
     Route: 065
  805. ATOMOXETINE [Suspect]
     Active Substance: ATOMOXETINE
     Route: 065
  806. GOLD [Suspect]
     Active Substance: GOLD
     Route: 065
  807. ERGOCALCIFEROL [Suspect]
     Active Substance: ERGOCALCIFEROL
     Route: 065
  808. ERGOCALCIFEROL [Suspect]
     Active Substance: ERGOCALCIFEROL
     Route: 065
  809. FLUMETHASONE [Suspect]
     Active Substance: FLUMETHASONE
     Route: 065
  810. LEFLUNOMIDE [Suspect]
     Active Substance: LEFLUNOMIDE
     Indication: Rheumatoid arthritis
     Route: 048
  811. LEFLUNOMIDE [Suspect]
     Active Substance: LEFLUNOMIDE
     Route: 065
  812. LEFLUNOMIDE [Suspect]
     Active Substance: LEFLUNOMIDE
     Route: 065
  813. LEFLUNOMIDE [Suspect]
     Active Substance: LEFLUNOMIDE
     Dosage: 20 MG, 1X/DAY
     Route: 065
  814. LEFLUNOMIDE [Suspect]
     Active Substance: LEFLUNOMIDE
     Route: 065
  815. LEFLUNOMIDE [Suspect]
     Active Substance: LEFLUNOMIDE
     Route: 065
  816. LEFLUNOMIDE [Suspect]
     Active Substance: LEFLUNOMIDE
     Route: 065
  817. LEFLUNOMIDE [Suspect]
     Active Substance: LEFLUNOMIDE
     Route: 048
  818. LEFLUNOMIDE [Suspect]
     Active Substance: LEFLUNOMIDE
     Route: 048
  819. LEFLUNOMIDE [Suspect]
     Active Substance: LEFLUNOMIDE
     Route: 065
  820. LEFLUNOMIDE [Suspect]
     Active Substance: LEFLUNOMIDE
     Route: 065
  821. LEFLUNOMIDE [Suspect]
     Active Substance: LEFLUNOMIDE
     Route: 065
  822. HYDROCORTISONE PROBUTATE [Suspect]
     Active Substance: HYDROCORTISONE PROBUTATE
     Route: 065
  823. HAIR KERATIN AMINO ACIDS GOLD COMPLEX [Suspect]
     Active Substance: HAIR KERATIN AMINO ACIDS GOLD COMPLEX
     Indication: Rheumatoid arthritis
     Route: 065
  824. NAPROXEN SODIUM [Suspect]
     Active Substance: NAPROXEN SODIUM
     Dosage: 500 MG, 1X/DAY
     Route: 065
  825. NAPROXEN SODIUM [Suspect]
     Active Substance: NAPROXEN SODIUM
     Dosage: 500 MG, 1X/DAY
     Route: 065
  826. PSEUDOEPHEDRINE [Suspect]
     Active Substance: PSEUDOEPHEDRINE
     Route: 065
  827. HYDROXYCHLOROQUINE DIPHOSPHATE [Suspect]
     Active Substance: HYDROXYCHLOROQUINE DIPHOSPHATE
     Route: 065
  828. RIBOFLAVIN [Suspect]
     Active Substance: RIBOFLAVIN
     Route: 065
  829. RIBOFLAVIN [Suspect]
     Active Substance: RIBOFLAVIN
     Route: 065
  830. ZINC [Suspect]
     Active Substance: ZINC
     Route: 040
  831. HYDROCORTISONE PROBUTATE [Suspect]
     Active Substance: HYDROCORTISONE PROBUTATE
     Route: 065
  832. MINOCYCLINE HYDROCHLORIDE [Suspect]
     Active Substance: MINOCYCLINE HYDROCHLORIDE
     Route: 065
  833. CAFFEINE [Suspect]
     Active Substance: CAFFEINE
     Indication: Rheumatoid arthritis
     Route: 065
  834. CAFFEINE [Suspect]
     Active Substance: CAFFEINE
     Route: 065
  835. CAFFEINE [Suspect]
     Active Substance: CAFFEINE
     Route: 065
  836. CAFFEINE [Suspect]
     Active Substance: CAFFEINE
     Route: 065
  837. CAFFEINE [Suspect]
     Active Substance: CAFFEINE
     Route: 065
  838. VITAMIN C [Suspect]
     Active Substance: ASCORBIC ACID
  839. VITAMIN C [Suspect]
     Active Substance: ASCORBIC ACID
     Route: 065
  840. TUMS ULTRA [Suspect]
     Active Substance: CALCIUM CARBONATE
  841. TUMS ULTRA [Suspect]
     Active Substance: CALCIUM CARBONATE
  842. BENFOTIAMINE [Suspect]
     Active Substance: BENFOTIAMINE
  843. DIATRIZOATE MEGLUMINE [Suspect]
     Active Substance: DIATRIZOATE MEGLUMINE
     Route: 040
  844. POVIDONE-IODINE [Suspect]
     Active Substance: POVIDONE-IODINE
  845. TRUXIMA [Suspect]
     Active Substance: RITUXIMAB-ABBS
     Indication: Rheumatoid arthritis
  846. TRUXIMA [Suspect]
     Active Substance: RITUXIMAB-ABBS
  847. TRUXIMA [Suspect]
     Active Substance: RITUXIMAB-ABBS
     Route: 058
  848. TRUXIMA [Suspect]
     Active Substance: RITUXIMAB-ABBS
     Route: 043
  849. TRUXIMA [Suspect]
     Active Substance: RITUXIMAB-ABBS
  850. TRUXIMA [Suspect]
     Active Substance: RITUXIMAB-ABBS
  851. TRUXIMA [Suspect]
     Active Substance: RITUXIMAB-ABBS
     Route: 040
  852. TRUXIMA [Suspect]
     Active Substance: RITUXIMAB-ABBS
     Route: 040
  853. VOLTAREN [Suspect]
     Active Substance: DICLOFENAC SODIUM
     Route: 048
  854. METFORMIN [Suspect]
     Active Substance: METFORMIN HYDROCHLORIDE
     Route: 040
  855. HYDROCORTISONE SODIUM SUCCINATE [Suspect]
     Active Substance: HYDROCORTISONE SODIUM SUCCINATE
     Indication: Rheumatoid arthritis
     Route: 065
  856. HYDROCORTISONE SODIUM SUCCINATE [Suspect]
     Active Substance: HYDROCORTISONE SODIUM SUCCINATE
     Route: 058
  857. HYDROCORTISONE SODIUM SUCCINATE [Suspect]
     Active Substance: HYDROCORTISONE SODIUM SUCCINATE
     Route: 058
  858. CALCIUM CARBONATE [Suspect]
     Active Substance: CALCIUM CARBONATE
  859. CALCIUM CARBONATE [Suspect]
     Active Substance: CALCIUM CARBONATE
  860. CETIRIZINE HYDROCHLORIDE [Suspect]
     Active Substance: CETIRIZINE HYDROCHLORIDE
     Indication: Rheumatoid arthritis
  861. CETIRIZINE HYDROCHLORIDE [Suspect]
     Active Substance: CETIRIZINE HYDROCHLORIDE
     Route: 048
  862. CETIRIZINE HYDROCHLORIDE [Suspect]
     Active Substance: CETIRIZINE HYDROCHLORIDE
     Route: 048
  863. CETIRIZINE HYDROCHLORIDE [Suspect]
     Active Substance: CETIRIZINE HYDROCHLORIDE
     Route: 065
  864. CETIRIZINE HYDROCHLORIDE [Suspect]
     Active Substance: CETIRIZINE HYDROCHLORIDE
     Route: 065
  865. CETIRIZINE HYDROCHLORIDE [Suspect]
     Active Substance: CETIRIZINE HYDROCHLORIDE
     Route: 065
  866. CETIRIZINE HYDROCHLORIDE [Suspect]
     Active Substance: CETIRIZINE HYDROCHLORIDE
     Route: 065
  867. CETIRIZINE HYDROCHLORIDE [Suspect]
     Active Substance: CETIRIZINE HYDROCHLORIDE
     Route: 048
  868. CETIRIZINE HYDROCHLORIDE [Suspect]
     Active Substance: CETIRIZINE HYDROCHLORIDE
     Route: 065
  869. DESOGESTREL AND ETHINYL ESTRADIOL [Concomitant]
     Active Substance: DESOGESTREL\ETHINYL ESTRADIOL
  870. NAPROXEN [Concomitant]
     Active Substance: NAPROXEN
     Dosage: 500 MG, 1X/DAY
     Route: 065
  871. NAPROXEN [Concomitant]
     Active Substance: NAPROXEN
     Route: 065

REACTIONS (55)
  - Hypercholesterolaemia [Fatal]
  - Drug intolerance [Fatal]
  - Hypersensitivity [Fatal]
  - Hypertension [Fatal]
  - Gastrooesophageal reflux disease [Fatal]
  - Onychomycosis [Fatal]
  - Pneumonia [Fatal]
  - Maternal exposure during pregnancy [Fatal]
  - Psoriatic arthropathy [Fatal]
  - Rheumatoid arthritis [Fatal]
  - Rheumatoid arthritis [Fatal]
  - Pemphigus [Fatal]
  - Type 2 diabetes mellitus [Fatal]
  - Systemic lupus erythematosus [Fatal]
  - Pericarditis [Fatal]
  - Depression [Fatal]
  - Paraesthesia [Fatal]
  - Osteoarthritis [Fatal]
  - Blepharospasm [Fatal]
  - Breast cancer stage III [Fatal]
  - Duodenal ulcer perforation [Fatal]
  - Helicobacter infection [Fatal]
  - Epilepsy [Fatal]
  - Fibromyalgia [Fatal]
  - Peripheral venous disease [Fatal]
  - Hepatitis [Fatal]
  - Back injury [Fatal]
  - Injection site reaction [Fatal]
  - Treatment failure [Fatal]
  - Intentional product use issue [Fatal]
  - Contusion [Not Recovered/Not Resolved]
  - Bursitis [Fatal]
  - Delirium [Fatal]
  - Ear pain [Fatal]
  - Crohn^s disease [Fatal]
  - Product label confusion [Fatal]
  - Off label use [Fatal]
  - Overdose [Not Recovered/Not Resolved]
  - Underdose [Fatal]
  - Coeliac disease [Fatal]
  - Confusional state [Fatal]
  - Dry mouth [Fatal]
  - General physical health deterioration [Fatal]
  - Headache [Fatal]
  - Inflammation [Fatal]
  - Insomnia [Fatal]
  - Fall [Fatal]
  - Pain [Unknown]
  - Rheumatic fever [Unknown]
  - Weight increased [Unknown]
  - Product quality issue [Unknown]
  - Condition aggravated [Unknown]
  - Taste disorder [Unknown]
  - Hypotension [Unknown]
  - Incorrect product administration duration [Unknown]

NARRATIVE: CASE EVENT DATE: 20150818
